FAERS Safety Report 23616231 (Version 7)
Quarter: 2025Q4

REPORT INFORMATION
  Report Type: Spontaneous
  Country: GB (occurrence: GB)
  Receive Date: 20240311
  Receipt Date: 20251226
  Transmission Date: 20260118
  Serious: Yes (Hospitalization, Other)
  Sender: SANDOZ
  Company Number: None

PATIENT
  Age: 68 Year
  Sex: Female
  Weight: 92 kg

DRUGS (730)
  1. IRBESARTAN [Suspect]
     Active Substance: IRBESARTAN
     Indication: Abdominal discomfort
     Dosage: 150 GRAM, 1 DOSE PER 1 D
     Dates: start: 20100912
  2. IRBESARTAN [Suspect]
     Active Substance: IRBESARTAN
     Indication: Depression
     Dosage: 150 G, DAILY
     Dates: start: 20100917
  3. IRBESARTAN [Suspect]
     Active Substance: IRBESARTAN
     Indication: Rheumatoid arthritis
     Dosage: 150 G, ONCE PER DAY
     Dates: start: 20100917
  4. IRBESARTAN [Suspect]
     Active Substance: IRBESARTAN
     Indication: Abdominal discomfort
     Dosage: 150 G, ONCE PER DAY
     Dates: start: 20100917
  5. IRBESARTAN [Suspect]
     Active Substance: IRBESARTAN
     Indication: Product used for unknown indication
     Dosage: 150 G, QD
     Dates: start: 20100917
  6. IRBESARTAN [Suspect]
     Active Substance: IRBESARTAN
     Dosage: 150 MILLIGRAM, QD
     Dates: start: 20100912
  7. IRBESARTAN [Suspect]
     Active Substance: IRBESARTAN
     Dosage: 150 G, ONCE PER DAY
  8. IRBESARTAN [Suspect]
     Active Substance: IRBESARTAN
     Dosage: UNK
  9. IRBESARTAN [Suspect]
     Active Substance: IRBESARTAN
     Dosage: 150 MILLIGRAM, QD
     Dates: start: 20100919
  10. IRBESARTAN [Suspect]
     Active Substance: IRBESARTAN
     Dosage: 150 MG, QD
  11. IRBESARTAN [Suspect]
     Active Substance: IRBESARTAN
     Dosage: 150 GRAM, QD
  12. IRBESARTAN [Suspect]
     Active Substance: IRBESARTAN
     Dosage: 150 G, QD
  13. IRBESARTAN [Suspect]
     Active Substance: IRBESARTAN
     Dosage: 150 MG, QD (150 MG, QD (DAILY))
  14. OMEPRAZOLE [Suspect]
     Active Substance: OMEPRAZOLE
     Indication: Abdominal discomfort
     Dosage: 40 MG, QD (20 MG, 2X/DAY)
     Dates: start: 20100917
  15. OMEPRAZOLE [Suspect]
     Active Substance: OMEPRAZOLE
     Indication: Product used for unknown indication
     Dosage: 20 MG, QD, BATCH AND LOT TESTED AND FOUND WITHIN SPECIFICATIONS, MEDICATION ERROR, MISUSE
     Dates: start: 20100917
  16. OMEPRAZOLE [Suspect]
     Active Substance: OMEPRAZOLE
     Indication: Gastrointestinal disorder
     Dosage: 80 MG, QD, BATCH AND LOT TESTED AND FOUND WITHIN SPECIFICATIONS, MEDICATION ERROR, MISUSE
     Dates: start: 20100917
  17. OMEPRAZOLE [Suspect]
     Active Substance: OMEPRAZOLE
     Indication: Abdominal discomfort
     Dosage: 80 MG, QD
     Dates: start: 20200917
  18. OMEPRAZOLE [Suspect]
     Active Substance: OMEPRAZOLE
     Dosage: 20 MG, QD, BATCH AND LOT TESTED AND FOUND WITHIN SPECIFICATIONS, MEDICATION ERROR, MISUSE
     Dates: start: 20200917
  19. OMEPRAZOLE [Suspect]
     Active Substance: OMEPRAZOLE
     Dosage: 40 MG, QD;20 MG, 2 TIMES PER DAY (20 MG, 2X/DAY)
     Dates: start: 20100917
  20. OMEPRAZOLE [Suspect]
     Active Substance: OMEPRAZOLE
     Dosage: 80 MG, QD;20 MG, 4 TIMES PER DAY
     Dates: start: 20100917
  21. OMEPRAZOLE [Suspect]
     Active Substance: OMEPRAZOLE
     Dosage: 80 MG, QD;40 MG, 2 TIMES PER DAY (40 MG, QD (20 MG, 2X/DAY))
     Dates: start: 20100917
  22. OMEPRAZOLE [Suspect]
     Active Substance: OMEPRAZOLE
     Dosage: 40 MG, QD (20 MG, 2X/DAY)
     Dates: start: 20100917
  23. OMEPRAZOLE [Suspect]
     Active Substance: OMEPRAZOLE
     Dosage: 20 MG, BID
  24. OMEPRAZOLE [Suspect]
     Active Substance: OMEPRAZOLE
     Dosage: 20 MG, QH (480 MILLIGRAM DAILY; 20 MG,  2X/DAY)
  25. OMEPRAZOLE [Suspect]
     Active Substance: OMEPRAZOLE
     Dosage: 20 MILLIGRAM QD
  26. OMEPRAZOLE [Suspect]
     Active Substance: OMEPRAZOLE
     Dosage: 80 MG, QD
  27. OMEPRAZOLE [Suspect]
     Active Substance: OMEPRAZOLE
     Dosage: 20 MG, QH (480 MILLIGRAM DAILY; 20 MG, 2X/DAY)
  28. OMEPRAZOLE [Suspect]
     Active Substance: OMEPRAZOLE
     Dosage: 80 MG, ONCE PER DAY
  29. OMEPRAZOLE [Suspect]
     Active Substance: OMEPRAZOLE
     Dosage: 20 MILLIGRAM, QD
  30. OMEPRAZOLE [Suspect]
     Active Substance: OMEPRAZOLE
     Dosage: 80 MILLIGRAM, QD
  31. OMEPRAZOLE [Suspect]
     Active Substance: OMEPRAZOLE
     Dosage: 20 MG,  UNK (BID 40 MG, QD 2X/DAY)
  32. OMEPRAZOLE [Suspect]
     Active Substance: OMEPRAZOLE
     Dosage: 20 MG, PER HOUR (480 MILLIGRAM DAILY; 20 MG, 2X/DAY)
  33. OMEPRAZOLE [Suspect]
     Active Substance: OMEPRAZOLE
     Dosage: 20 MG, ONCE PER DAY
  34. OMEPRAZOLE [Suspect]
     Active Substance: OMEPRAZOLE
     Dosage: 20 MILLIGRAM, QD
  35. OMEPRAZOLE [Suspect]
     Active Substance: OMEPRAZOLE
     Dosage: 20 MG, QH (480 MILLIGRAM DAILY; 20 MG, 2X/DAY)
  36. OMEPRAZOLE [Suspect]
     Active Substance: OMEPRAZOLE
     Dosage: 20 MG, BID
  37. OMEPRAZOLE [Suspect]
     Active Substance: OMEPRAZOLE
     Dosage: 80 MILLIGRAM, QD
  38. OMEPRAZOLE [Suspect]
     Active Substance: OMEPRAZOLE
     Dosage: 20 MG, QH (480 MILLIGRAM DAILY; 20 MG, 2X/DAY)
  39. OMEPRAZOLE [Suspect]
     Active Substance: OMEPRAZOLE
     Dosage: 80 MILLIGRAM, QD
  40. OMEPRAZOLE [Suspect]
     Active Substance: OMEPRAZOLE
     Dosage: 20 MILLIGRAM, QD
  41. OMEPRAZOLE [Suspect]
     Active Substance: OMEPRAZOLE
     Dosage: 20 MILLIGRAM, QD
  42. OMEPRAZOLE [Suspect]
     Active Substance: OMEPRAZOLE
     Dosage: 20 MILLIGRAM, QD
     Dates: start: 20100917
  43. OMEPRAZOLE [Suspect]
     Active Substance: OMEPRAZOLE
     Dosage: 20 MG, QH
  44. OMEPRAZOLE [Suspect]
     Active Substance: OMEPRAZOLE
     Dosage: 20 MG, QH (480 MILLIGRAM DAILY; 20 MG, 2X/DAY)
  45. OMEPRAZOLE [Suspect]
     Active Substance: OMEPRAZOLE
     Dosage: 20 MILLIGRAM, BID
  46. OMEPRAZOLE [Suspect]
     Active Substance: OMEPRAZOLE
     Dosage: 20 MG, PER HOUR (480 MILLIGRAM DAILY; 20 MG, 2X/DAY)
  47. OMEPRAZOLE [Suspect]
     Active Substance: OMEPRAZOLE
     Dosage: 80 MG QD
  48. OMEPRAZOLE [Suspect]
     Active Substance: OMEPRAZOLE
     Dosage: 20 MILLIGRAM QD
  49. OMEPRAZOLE [Suspect]
     Active Substance: OMEPRAZOLE
     Dosage: 20 MG, BID
  50. OMEPRAZOLE [Suspect]
     Active Substance: OMEPRAZOLE
     Dosage: 20 MG,  UNK (BID 40 MG, QD 2X/DAY)
  51. OMEPRAZOLE [Suspect]
     Active Substance: OMEPRAZOLE
     Dosage: 20 MILLIGRAM, BID
  52. CIPROFLOXACIN [Suspect]
     Active Substance: CIPROFLOXACIN
     Indication: Product used for unknown indication
     Dosage: 1000 MG, ONCE PER DAY
     Dates: start: 20100917
  53. CIPROFLOXACIN [Suspect]
     Active Substance: CIPROFLOXACIN
     Indication: Abdominal discomfort
     Dosage: 1000 MG, ONCE PER DAY
     Dates: start: 20200917
  54. CIPROFLOXACIN [Suspect]
     Active Substance: CIPROFLOXACIN
     Indication: Rheumatoid arthritis
     Dosage: 1000 MG, ONCE PER DAY
     Dates: start: 20100917
  55. CIPROFLOXACIN [Suspect]
     Active Substance: CIPROFLOXACIN
     Indication: Depression
     Dosage: 1000 MG, ONCE PER DAY
     Dates: start: 20100917
  56. CIPROFLOXACIN [Suspect]
     Active Substance: CIPROFLOXACIN
     Dosage: 1000 MG, QD
     Dates: start: 20200917
  57. CIPROFLOXACIN [Suspect]
     Active Substance: CIPROFLOXACIN
     Dosage: UNK
  58. CIPROFLOXACIN [Suspect]
     Active Substance: CIPROFLOXACIN
     Dosage: UNK
  59. CIPROFLOXACIN [Suspect]
     Active Substance: CIPROFLOXACIN
     Dosage: 1000 MG, QD
     Dates: start: 20200917
  60. CIPROFLOXACIN [Suspect]
     Active Substance: CIPROFLOXACIN
     Dosage: 1000 MG, QD
     Dates: start: 20200917
  61. CIPROFLOXACIN [Suspect]
     Active Substance: CIPROFLOXACIN
     Dosage: 1000 MG, ONCE PER DAY
     Dates: start: 20100917
  62. CIPROFLOXACIN [Suspect]
     Active Substance: CIPROFLOXACIN
     Dosage: 1000 MG, DAILY
     Dates: start: 20100917
  63. CIPROFLOXACIN [Suspect]
     Active Substance: CIPROFLOXACIN
     Dosage: UNK
  64. CIPROFLOXACIN [Suspect]
     Active Substance: CIPROFLOXACIN
     Dosage: 1000 MG, QD
     Dates: start: 20200917
  65. CIPROFLOXACIN [Suspect]
     Active Substance: CIPROFLOXACIN
     Dosage: UNK
  66. CIPROFLOXACIN [Suspect]
     Active Substance: CIPROFLOXACIN
     Dosage: UNK,  UNK
  67. CIPROFLOXACIN [Suspect]
     Active Substance: CIPROFLOXACIN
     Dosage: 1000 MG, ONCE PER DAY
  68. ZINC [Suspect]
     Active Substance: ZINC
     Indication: Depression
     Dosage: 750 MG
  69. ZINC [Suspect]
     Active Substance: ZINC
     Indication: Abdominal discomfort
     Dosage: 750 MG, QD (DIETHYLDITHIOCARBAMATE)
  70. ZINC [Suspect]
     Active Substance: ZINC
     Indication: Pulmonary pain
     Dosage: 750 MG (DIETHYLDITHIOCARBAMATE)
  71. ZINC [Suspect]
     Active Substance: ZINC
     Indication: Product used for unknown indication
     Dosage: 750 MG,  ONCE PER DAY, (DIETHYLDITHIOCARBAMATE)
  72. ZINC [Suspect]
     Active Substance: ZINC
     Indication: Abdominal discomfort
     Dosage: 750 MG,  UNK
  73. ZINC [Suspect]
     Active Substance: ZINC
     Indication: Abdominal discomfort
     Dosage: UNK
  74. ZINC [Suspect]
     Active Substance: ZINC
     Dosage: 750 MG
  75. ZINC [Suspect]
     Active Substance: ZINC
     Dosage: UNK
  76. ZINC [Suspect]
     Active Substance: ZINC
     Dosage: 750 MG
  77. ZINC [Suspect]
     Active Substance: ZINC
     Dosage: UNK,  UNK (DIETHYLDITHIOCARBAMATE)
  78. ZINC [Suspect]
     Active Substance: ZINC
     Dosage: DIETHYLDITHIOCARBAMATE
  79. ZINC [Suspect]
     Active Substance: ZINC
     Dosage: DIETHYLDITHIOCARBAMATE, 750 MG, QD
  80. ZINC [Suspect]
     Active Substance: ZINC
     Dosage: UNK (DIETHYLDITHIOCARBAMATE)
  81. ZINC [Suspect]
     Active Substance: ZINC
     Dosage: 750 MG, QD (DIETHYLDITHIOCARBAMATE)
  82. ZINC [Suspect]
     Active Substance: ZINC
     Dosage: UNK
  83. ZINC [Suspect]
     Active Substance: ZINC
     Dosage: UNK (DIETHYLDITHIOCARBAMATE)
  84. ZINC [Suspect]
     Active Substance: ZINC
     Dosage: UNK
  85. ZINC [Suspect]
     Active Substance: ZINC
     Dosage: UNK (DIETHYLDITHIOCARBAMATE)
  86. AMINOPHYLLINE [Suspect]
     Active Substance: AMINOPHYLLINE
     Indication: Depression
     Dosage: 400 MG, QD
     Dates: start: 20100917
  87. AMINOPHYLLINE [Suspect]
     Active Substance: AMINOPHYLLINE
     Indication: Product used for unknown indication
     Dosage: 400 MG, QD
     Dates: start: 20200917
  88. AMINOPHYLLINE [Suspect]
     Active Substance: AMINOPHYLLINE
     Indication: Product used for unknown indication
     Dosage: 400 MG, QD
  89. AMINOPHYLLINE [Suspect]
     Active Substance: AMINOPHYLLINE
     Dosage: UNK
  90. AMINOPHYLLINE [Suspect]
     Active Substance: AMINOPHYLLINE
     Dosage: 400 MG, QD
  91. THEOPHYLLINE [Suspect]
     Active Substance: THEOPHYLLINE
     Indication: Depression
     Dosage: 750 MG, QD
  92. THEOPHYLLINE [Suspect]
     Active Substance: THEOPHYLLINE
     Indication: Abdominal discomfort
     Dosage: 750 MG, ONCE PER DAY
  93. THEOPHYLLINE [Suspect]
     Active Substance: THEOPHYLLINE
     Indication: Abdominal discomfort
     Dosage: UNK
  94. THEOPHYLLINE [Suspect]
     Active Substance: THEOPHYLLINE
     Dosage: 750 MG, ONCE PER DAY
  95. THEOPHYLLINE [Suspect]
     Active Substance: THEOPHYLLINE
     Dosage: 750 MILLIGRAM, QD
  96. AMOXICILLIN [Suspect]
     Active Substance: AMOXICILLIN
     Indication: Abdominal discomfort
     Dosage: 25 MG (125 MG/ 5 ML (FROM 04 SEP 2021))
  97. AMOXICILLIN [Suspect]
     Active Substance: AMOXICILLIN
     Indication: Abdominal discomfort
     Dosage: 125 MG/ 5 ML
  98. AMOXICILLIN [Suspect]
     Active Substance: AMOXICILLIN
     Indication: Product used for unknown indication
     Dosage: 125 MG/ 5 ML (04-SEP-2021)
  99. AMOXICILLIN [Suspect]
     Active Substance: AMOXICILLIN
     Dosage: 125 MG/ 5 ML
  100. AMOXICILLIN [Suspect]
     Active Substance: AMOXICILLIN
     Dosage: 125 MG/ 5 ML
  101. AMOXICILLIN [Suspect]
     Active Substance: AMOXICILLIN
     Dosage: 25 MG (125 MG/ 5 ML (FROM 04 SEP 2021))
  102. AMOXICILLIN [Suspect]
     Active Substance: AMOXICILLIN
     Dosage: 125 MG/ 5 ML
  103. AMOXICILLIN [Suspect]
     Active Substance: AMOXICILLIN
     Dosage: 125 MG/ 5 ML
  104. METHOTREXATE SODIUM [Suspect]
     Active Substance: METHOTREXATE SODIUM
     Indication: Rheumatoid arthritis
     Dosage: 17.5 UNK, Q.W., WEEKLY, AT 17.5 (UNKNOWN UNIT)
     Dates: start: 20100917
  105. METHOTREXATE SODIUM [Suspect]
     Active Substance: METHOTREXATE SODIUM
     Dosage: 17.5 MG, PER WEEK (17.5 MILLIGRAM, Q.W., UNK UNK, Q.W., WEEKLY, AT 17.5 (UNKNOWN UNIT),)
     Dates: start: 20100917
  106. METHOTREXATE SODIUM [Suspect]
     Active Substance: METHOTREXATE SODIUM
     Dosage: 18 MG, PER WEEK (UNKNOWN, WEEKLY, QW (AT 17.5, WEEKLY))
     Dates: start: 20100917
  107. METHOTREXATE SODIUM [Suspect]
     Active Substance: METHOTREXATE SODIUM
     Dosage: 18 MG, QW
  108. METHOTREXATE SODIUM [Suspect]
     Active Substance: METHOTREXATE SODIUM
     Dosage: UNK, QW
  109. METHOTREXATE SODIUM [Suspect]
     Active Substance: METHOTREXATE SODIUM
     Dosage: UNK, PER WEEK (UNK UNK, QW)
  110. METHOTREXATE SODIUM [Suspect]
     Active Substance: METHOTREXATE SODIUM
     Dosage: UNK,UNK
  111. METHOTREXATE SODIUM [Suspect]
     Active Substance: METHOTREXATE SODIUM
     Dosage: 18 MG, PER WEEK
  112. METHOTREXATE SODIUM [Suspect]
     Active Substance: METHOTREXATE SODIUM
     Dosage: 18 MG, PER WEEK
  113. METHOTREXATE SODIUM [Suspect]
     Active Substance: METHOTREXATE SODIUM
     Dosage: UNK UNK, QW
  114. METHOTREXATE SODIUM [Suspect]
     Active Substance: METHOTREXATE SODIUM
     Dosage: UNK UNK, QW
  115. CARBOCYSTEINE [Suspect]
     Active Substance: CARBOCYSTEINE
     Indication: Rheumatoid arthritis
     Dosage: 750 MG, QD
     Dates: start: 20100917
  116. CARBOCYSTEINE [Suspect]
     Active Substance: CARBOCYSTEINE
     Indication: Depression
     Dosage: 750 MG, QD
     Dates: start: 20120917
  117. CARBOCYSTEINE [Suspect]
     Active Substance: CARBOCYSTEINE
     Dosage: 750 MG, QD
     Dates: start: 20200917
  118. CARBOCYSTEINE [Suspect]
     Active Substance: CARBOCYSTEINE
     Dosage: 750 MG, QD
     Dates: start: 20210917
  119. CARBOCYSTEINE [Suspect]
     Active Substance: CARBOCYSTEINE
     Dosage: UNK
  120. CARBOCYSTEINE [Suspect]
     Active Substance: CARBOCYSTEINE
     Dosage: 750 MG
  121. CARBAMAZEPINE [Suspect]
     Active Substance: CARBAMAZEPINE
     Indication: Depression
     Dosage: 750 MG, QD
     Dates: start: 20100917
  122. CARBAMAZEPINE [Suspect]
     Active Substance: CARBAMAZEPINE
     Indication: Product used for unknown indication
     Dosage: 750 MG, QD
     Dates: start: 20200917
  123. CARBAMAZEPINE [Suspect]
     Active Substance: CARBAMAZEPINE
     Indication: Product used for unknown indication
     Dosage: 750 MG, QD
     Dates: start: 20210917
  124. CARBAMAZEPINE [Suspect]
     Active Substance: CARBAMAZEPINE
     Indication: Abdominal discomfort
     Dosage: 1000 MG, QD
     Dates: start: 20100917
  125. CARBAMAZEPINE [Suspect]
     Active Substance: CARBAMAZEPINE
     Dosage: UNK
  126. CARBAMAZEPINE [Suspect]
     Active Substance: CARBAMAZEPINE
     Dosage: 750 MILLIGRAM, QD
     Dates: start: 20200917
  127. CARBAMAZEPINE [Suspect]
     Active Substance: CARBAMAZEPINE
     Dosage: 750 MILLIGRAM, QD
  128. CARBAMAZEPINE [Suspect]
     Active Substance: CARBAMAZEPINE
     Dosage: 750 MILLIGRAM, QD
  129. CARBAMAZEPINE [Suspect]
     Active Substance: CARBAMAZEPINE
     Dosage: 750 MG, QD
  130. ENBREL [Suspect]
     Active Substance: ETANERCEPT
     Indication: Rheumatoid arthritis
     Dosage: 50 MG, QW, MYCLIC PEN SC
     Route: 059
     Dates: start: 20100917
  131. ENBREL [Suspect]
     Active Substance: ETANERCEPT
     Dosage: 50 MG, QW, MYCLIC PEN
     Route: 059
     Dates: start: 20210917
  132. ENBREL [Suspect]
     Active Substance: ETANERCEPT
     Dosage: UNK, (MYCLIC PEN)
  133. ENBREL [Suspect]
     Active Substance: ETANERCEPT
     Dosage: UNK, UNK (MYCLIC PEN)
  134. ENBREL [Suspect]
     Active Substance: ETANERCEPT
     Dosage: UNK, UNK (MYCLIC PEN)
  135. ENBREL [Suspect]
     Active Substance: ETANERCEPT
     Dosage: UNK, UNK (MYCLIC PEN)
  136. ENBREL [Suspect]
     Active Substance: ETANERCEPT
     Dosage: 50 MG, QW, MYCLIC PEN SC
  137. ENBREL [Suspect]
     Active Substance: ETANERCEPT
     Dosage: UNK, (MYCLIC PEN)
  138. ENBREL [Suspect]
     Active Substance: ETANERCEPT
     Dosage: UNK, (MYCLIC PEN)
  139. ENBREL [Suspect]
     Active Substance: ETANERCEPT
     Dosage: UNK, (MYCLIC PEN)
  140. ENBREL [Suspect]
     Active Substance: ETANERCEPT
     Dosage: UNK, (MYCLIC PEN)
  141. ENBREL [Suspect]
     Active Substance: ETANERCEPT
     Dosage: UNK, (MYCLIC PEN)
  142. ENBREL [Suspect]
     Active Substance: ETANERCEPT
     Dosage: UNK, (MYCLIC PEN)
  143. PHYLLOCONTIN [Suspect]
     Active Substance: AMINOPHYLLINE
     Indication: Product used for unknown indication
     Dosage: 400 MG, QD
     Dates: start: 20100917
  144. PHYLLOCONTIN [Suspect]
     Active Substance: AMINOPHYLLINE
     Indication: Abdominal discomfort
     Dosage: 400 MG, QD
     Dates: start: 20200917
  145. PHYLLOCONTIN [Suspect]
     Active Substance: AMINOPHYLLINE
     Indication: Product used for unknown indication
     Dosage: 400 MG, QD
  146. PHYLLOCONTIN [Suspect]
     Active Substance: AMINOPHYLLINE
     Dosage: 400 MG, ONCE PER DAY
  147. PHYLLOCONTIN [Suspect]
     Active Substance: AMINOPHYLLINE
     Dosage: 400 MG, ONCE PER DAY
  148. PHYLLOCONTIN [Suspect]
     Active Substance: AMINOPHYLLINE
     Dosage: 400 MG, ONCE PER DAY (400 MG, QD)
     Dates: start: 20100917
  149. PHYLLOCONTIN [Suspect]
     Active Substance: AMINOPHYLLINE
     Dosage: 400 MG, ONCE PER DAY (400 MG, QD)
     Dates: start: 20200917
  150. PHYLLOCONTIN [Suspect]
     Active Substance: AMINOPHYLLINE
     Dosage: UNK
  151. PHYLLOCONTIN [Suspect]
     Active Substance: AMINOPHYLLINE
     Dosage: 400 MILLIGRAM, QD
  152. LACTOBACILLUS RHAMNOSUS [Suspect]
     Active Substance: LACTOBACILLUS RHAMNOSUS
     Indication: Depression
     Dosage: 750 MG
  153. LACTOBACILLUS RHAMNOSUS [Suspect]
     Active Substance: LACTOBACILLUS RHAMNOSUS
     Indication: Abdominal discomfort
     Dosage: UNK
  154. LACTOBACILLUS RHAMNOSUS [Suspect]
     Active Substance: LACTOBACILLUS RHAMNOSUS
     Indication: Abdominal discomfort
     Dosage: 750 MG, UNKNOWN
  155. LACTOBACILLUS RHAMNOSUS [Suspect]
     Active Substance: LACTOBACILLUS RHAMNOSUS
     Indication: Abdominal discomfort
     Dosage: UNK,  UNK
  156. LACTOBACILLUS RHAMNOSUS [Suspect]
     Active Substance: LACTOBACILLUS RHAMNOSUS
     Dosage: 750 MG, UNKNOWN
  157. LACTOBACILLUS RHAMNOSUS [Suspect]
     Active Substance: LACTOBACILLUS RHAMNOSUS
     Dosage: 750 MG, UNKNOWN
  158. LACTOBACILLUS RHAMNOSUS [Suspect]
     Active Substance: LACTOBACILLUS RHAMNOSUS
     Dosage: UNK
  159. LACTOBACILLUS RHAMNOSUS [Suspect]
     Active Substance: LACTOBACILLUS RHAMNOSUS
     Dosage: UNK,  UNK
  160. LACTOBACILLUS RHAMNOSUS [Suspect]
     Active Substance: LACTOBACILLUS RHAMNOSUS
     Dosage: UNK
  161. LACTOBACILLUS RHAMNOSUS [Suspect]
     Active Substance: LACTOBACILLUS RHAMNOSUS
     Dosage: UNK,  UNK
  162. LACTOBACILLUS RHAMNOSUS [Suspect]
     Active Substance: LACTOBACILLUS RHAMNOSUS
     Dosage: 750 MILLIGRAM
  163. LACTOBACILLUS RHAMNOSUS [Suspect]
     Active Substance: LACTOBACILLUS RHAMNOSUS
     Dosage: UNK
  164. LACTOBACILLUS RHAMNOSUS [Suspect]
     Active Substance: LACTOBACILLUS RHAMNOSUS
     Dosage: UNK
  165. LACTOBACILLUS RHAMNOSUS [Suspect]
     Active Substance: LACTOBACILLUS RHAMNOSUS
     Dosage: UNK
  166. GUANIDINE [Suspect]
     Active Substance: GUANIDINE
     Indication: Abdominal discomfort
     Dosage: 750 MG, QD
  167. GUANIDINE [Suspect]
     Active Substance: GUANIDINE
     Indication: Depression
     Dosage: UNK
  168. GUANIDINE [Suspect]
     Active Substance: GUANIDINE
     Indication: Product used for unknown indication
     Dosage: 750 MG (1,3-DIPHENYLGUANIDINE)
  169. GUANIDINE [Suspect]
     Active Substance: GUANIDINE
     Indication: Abdominal discomfort
     Dosage: 750 MG, ONCE PER DAY (750 MG, QD(1,3-DIPHENYLGUANIDINE))
  170. GUANIDINE [Suspect]
     Active Substance: GUANIDINE
     Indication: Abdominal discomfort
     Dosage: UNK UNK, QD (1,3-DIPHENYLGUANIDINE)
  171. GUANIDINE [Suspect]
     Active Substance: GUANIDINE
     Indication: Abdominal discomfort
     Dosage: UNK,  UNK
  172. GUANIDINE [Suspect]
     Active Substance: GUANIDINE
     Dosage: UNK,  UNK
  173. GUANIDINE [Suspect]
     Active Substance: GUANIDINE
     Dosage: UNK,  UNK (1,3-DIPHENYLGUANIDINE)
  174. GUANIDINE [Suspect]
     Active Substance: GUANIDINE
     Dosage: 750 MG, UNK (750 MG (1,3-DIPHENYLGUANIDINE))
  175. GUANIDINE [Suspect]
     Active Substance: GUANIDINE
     Dosage: 750 MG, ONCE PER DAY (750 MG, QD(1,3-DIPHENYLGUANIDINE))
  176. GUANIDINE [Suspect]
     Active Substance: GUANIDINE
     Dosage: UNK, ONCE PER DAY (UNK UNK, QD (1,3-DIPHENYLGUANIDINE)
  177. GUANIDINE [Suspect]
     Active Substance: GUANIDINE
     Dosage: UNK,  UNK
  178. GUANIDINE [Suspect]
     Active Substance: GUANIDINE
     Dosage: UNK,  UNK
  179. GUANIDINE [Suspect]
     Active Substance: GUANIDINE
     Dosage: UNK,  UNK (1,3-DIPHENYLGUANIDINE)
  180. GUANIDINE [Suspect]
     Active Substance: GUANIDINE
     Dosage: 750 MG, UNK (750 MG (1,3-DIPHENYLGUANIDINE))
  181. GUANIDINE [Suspect]
     Active Substance: GUANIDINE
     Dosage: 750 MG, ONCE PER DAY (750 MG, QD(1,3-DIPHENYLGUANIDINE))
  182. GUANIDINE [Suspect]
     Active Substance: GUANIDINE
     Dosage: UNK, ONCE PER DAY (UNK UNK, QD (1,3-DIPHENYLGUANIDINE)
  183. GUANIDINE [Suspect]
     Active Substance: GUANIDINE
     Dosage: UNK,  UNK
  184. GUANIDINE [Suspect]
     Active Substance: GUANIDINE
     Dosage: UNK,  UNK
  185. GUANIDINE [Suspect]
     Active Substance: GUANIDINE
     Dosage: UNK,  UNK (1,3-DIPHENYLGUANIDINE)
  186. GUANIDINE [Suspect]
     Active Substance: GUANIDINE
     Dosage: 750 MG, UNK (750 MG (1,3-DIPHENYLGUANIDINE))
  187. GUANIDINE [Suspect]
     Active Substance: GUANIDINE
     Dosage: UNK, ONCE PER DAY (UNK UNK, QD (1,3-DIPHENYLGUANIDINE)
  188. GUANIDINE [Suspect]
     Active Substance: GUANIDINE
     Dosage: UNK,  UNK
  189. GUANIDINE [Suspect]
     Active Substance: GUANIDINE
     Dosage: UNK,  UNK
  190. GUANIDINE [Suspect]
     Active Substance: GUANIDINE
     Dosage: UNK,  UNK (1,3-DIPHENYLGUANIDINE)
  191. GUANIDINE [Suspect]
     Active Substance: GUANIDINE
     Dosage: 1,3-DIPHENYLGUANIDINE
  192. GUANIDINE [Suspect]
     Active Substance: GUANIDINE
     Dosage: UNK UNK, QD (1,3-DIPHENYLGUANIDINE)
  193. GUANIDINE [Suspect]
     Active Substance: GUANIDINE
     Dosage: 1,3-DIPHENYLGUANIDINE
  194. GUANIDINE [Suspect]
     Active Substance: GUANIDINE
     Dosage: UNK
  195. GUANIDINE [Suspect]
     Active Substance: GUANIDINE
     Dosage: 750 MG, QD
  196. GUANIDINE [Suspect]
     Active Substance: GUANIDINE
     Dosage: 750 MG (1,3-DIPHENYLGUANIDINE)
  197. GUANIDINE [Suspect]
     Active Substance: GUANIDINE
     Dosage: UNK UNK, QD (1,3-DIPHENYLGUANIDINE)
  198. GUANIDINE [Suspect]
     Active Substance: GUANIDINE
     Dosage: UNK UNK, QD (1,3-DIPHENYLGUANIDINE)
  199. GUANIDINE [Suspect]
     Active Substance: GUANIDINE
     Dosage: UNK
  200. GUANIDINE [Suspect]
     Active Substance: GUANIDINE
     Dosage: UNK UNK, QD (1,3-DIPHENYLGUANIDINE)
  201. GUANIDINE [Suspect]
     Active Substance: GUANIDINE
     Dosage: UNK UNK, QD (1,3-DIPHENYLGUANIDINE)
  202. GUANIDINE [Suspect]
     Active Substance: GUANIDINE
     Dosage: UNK
  203. GUANIDINE [Suspect]
     Active Substance: GUANIDINE
     Dosage: UNK UNK, QD (1,3-DIPHENYLGUANIDINE)
  204. SULFAGUANIDINE [Suspect]
     Active Substance: SULFAGUANIDINE
     Indication: Abdominal discomfort
     Dosage: 750 MG, QD
  205. SULFAGUANIDINE [Suspect]
     Active Substance: SULFAGUANIDINE
     Indication: Abdominal discomfort
     Dosage: 750 MG, QD
  206. SULFAGUANIDINE [Suspect]
     Active Substance: SULFAGUANIDINE
     Dosage: 750 MG,  ONCE PER DAY
  207. SULFAGUANIDINE [Suspect]
     Active Substance: SULFAGUANIDINE
     Dosage: 750 MG, ONCE PER DAY
  208. SULFAGUANIDINE [Suspect]
     Active Substance: SULFAGUANIDINE
     Dosage: 750 MG,  ONCE PER DAY
  209. SULFAGUANIDINE [Suspect]
     Active Substance: SULFAGUANIDINE
     Dosage: 750 MG, ONCE PER DAY
  210. SULFAGUANIDINE [Suspect]
     Active Substance: SULFAGUANIDINE
     Dosage: 750 MG,  ONCE PER DAY
  211. SULFAGUANIDINE [Suspect]
     Active Substance: SULFAGUANIDINE
     Dosage: 750 MG, ONCE PER DAY
  212. SULFAGUANIDINE [Suspect]
     Active Substance: SULFAGUANIDINE
     Dosage: UNK UNK, QD
  213. SULFAGUANIDINE [Suspect]
     Active Substance: SULFAGUANIDINE
     Dosage: 750 MG, QD
  214. SULFAGUANIDINE [Suspect]
     Active Substance: SULFAGUANIDINE
     Dosage: UNK UNK, QD
  215. SULFAGUANIDINE [Suspect]
     Active Substance: SULFAGUANIDINE
     Dosage: UNK UNK, QD
  216. SULFAGUANIDINE [Suspect]
     Active Substance: SULFAGUANIDINE
     Dosage: UNK UNK, QD
  217. CHARCOAL ACTIVATED [Suspect]
     Active Substance: ACTIVATED CHARCOAL
     Indication: Product used for unknown indication
     Dosage: 750 MG
  218. CHARCOAL ACTIVATED [Suspect]
     Active Substance: ACTIVATED CHARCOAL
     Indication: Product used for unknown indication
     Dosage: 750 MG, QD
  219. CHARCOAL ACTIVATED [Suspect]
     Active Substance: ACTIVATED CHARCOAL
     Indication: Rheumatoid arthritis
     Dosage: 750 MG
  220. CHARCOAL ACTIVATED [Suspect]
     Active Substance: ACTIVATED CHARCOAL
     Dosage: 1,3-DIPHENYLGUANIDINE
  221. CHARCOAL ACTIVATED [Suspect]
     Active Substance: ACTIVATED CHARCOAL
     Dosage: 750 MG;
  222. CHARCOAL ACTIVATED [Suspect]
     Active Substance: ACTIVATED CHARCOAL
     Dosage: 750 MILLIGRAM, QD
  223. BIFIDOBACTERIUM LONGUM [Suspect]
     Active Substance: BIFIDOBACTERIUM LONGUM
     Indication: Depression
     Dosage: 750 MG
  224. BIFIDOBACTERIUM LONGUM [Suspect]
     Active Substance: BIFIDOBACTERIUM LONGUM
     Indication: Abdominal discomfort
     Dosage: 750 MG, UNK
  225. BIFIDOBACTERIUM LONGUM [Suspect]
     Active Substance: BIFIDOBACTERIUM LONGUM
     Indication: Abdominal discomfort
     Dosage: UNK
  226. BIFIDOBACTERIUM LONGUM [Suspect]
     Active Substance: BIFIDOBACTERIUM LONGUM
     Indication: Abdominal discomfort
     Dosage: 750 MG, UNK
  227. BIFIDOBACTERIUM LONGUM [Suspect]
     Active Substance: BIFIDOBACTERIUM LONGUM
     Dosage: UNK,UNK
  228. BIFIDOBACTERIUM LONGUM [Suspect]
     Active Substance: BIFIDOBACTERIUM LONGUM
     Dosage: DAILY DOSE 750 MG
  229. BIFIDOBACTERIUM LONGUM [Suspect]
     Active Substance: BIFIDOBACTERIUM LONGUM
     Dosage: UNK
  230. BIFIDOBACTERIUM LONGUM [Suspect]
     Active Substance: BIFIDOBACTERIUM LONGUM
     Dosage: 750 MG
  231. BIFIDOBACTERIUM LONGUM [Suspect]
     Active Substance: BIFIDOBACTERIUM LONGUM
     Dosage: UNK,UNK
  232. BIFIDOBACTERIUM LONGUM [Suspect]
     Active Substance: BIFIDOBACTERIUM LONGUM
     Dosage: UNK
  233. BIFIDOBACTERIUM LONGUM [Suspect]
     Active Substance: BIFIDOBACTERIUM LONGUM
     Dosage: UNK,UNK
  234. BIFIDOBACTERIUM LONGUM [Suspect]
     Active Substance: BIFIDOBACTERIUM LONGUM
     Dosage: UNK
  235. BIFIDOBACTERIUM LONGUM [Suspect]
     Active Substance: BIFIDOBACTERIUM LONGUM
     Dosage: 750 MG
  236. BIFIDOBACTERIUM LONGUM [Suspect]
     Active Substance: BIFIDOBACTERIUM LONGUM
     Dosage: 750 MILLIGRAM
  237. BIFIDOBACTERIUM LONGUM [Suspect]
     Active Substance: BIFIDOBACTERIUM LONGUM
     Dosage: 750 MILLIGRAM
  238. BIFIDOBACTERIUM LONGUM [Suspect]
     Active Substance: BIFIDOBACTERIUM LONGUM
     Dosage: UNK
  239. BIFIDOBACTERIUM LONGUM [Suspect]
     Active Substance: BIFIDOBACTERIUM LONGUM
     Dosage: UNK
  240. VENLAFAXINE HYDROCHLORIDE [Suspect]
     Active Substance: VENLAFAXINE HYDROCHLORIDE
     Indication: Rheumatoid arthritis
     Dosage: 225 MG, QD (XL, PROLONGED RELEASE)
  241. VENLAFAXINE HYDROCHLORIDE [Suspect]
     Active Substance: VENLAFAXINE HYDROCHLORIDE
     Indication: Depression
     Dosage: 225 MG, QD (XL, PROLONGED RELEASE)
  242. VENLAFAXINE HYDROCHLORIDE [Suspect]
     Active Substance: VENLAFAXINE HYDROCHLORIDE
     Indication: Product used for unknown indication
     Dosage: 225 MG, QD (XL, PROLONGED RELEASE)
  243. VENLAFAXINE HYDROCHLORIDE [Suspect]
     Active Substance: VENLAFAXINE HYDROCHLORIDE
     Dosage: 225 MG, ONCE PER DAY
  244. VENLAFAXINE HYDROCHLORIDE [Suspect]
     Active Substance: VENLAFAXINE HYDROCHLORIDE
     Dosage: UNK
  245. VENLAFAXINE HYDROCHLORIDE [Suspect]
     Active Substance: VENLAFAXINE HYDROCHLORIDE
     Dosage: 225 MG, ONCE PER DAY, PROLONGED RELEASE,225 MG, DAILY
  246. VENLAFAXINE HYDROCHLORIDE [Suspect]
     Active Substance: VENLAFAXINE HYDROCHLORIDE
     Dosage: 225 MG, ONCE PER DAY
  247. VENLAFAXINE HYDROCHLORIDE [Suspect]
     Active Substance: VENLAFAXINE HYDROCHLORIDE
     Dosage: 225 MG, ONCE PER DAY
  248. VENLAFAXINE HYDROCHLORIDE [Suspect]
     Active Substance: VENLAFAXINE HYDROCHLORIDE
     Dosage: UNK,  UNK (UNKNOWN; ;)
  249. VENLAFAXINE HYDROCHLORIDE [Suspect]
     Active Substance: VENLAFAXINE HYDROCHLORIDE
     Dosage: 225 MG, ONCE PER DAY, PROLONGED RELEASE,225 MG, DAILY
  250. VENLAFAXINE HYDROCHLORIDE [Suspect]
     Active Substance: VENLAFAXINE HYDROCHLORIDE
     Dosage: 225 MG, ONCE PER DAY
  251. VENLAFAXINE HYDROCHLORIDE [Suspect]
     Active Substance: VENLAFAXINE HYDROCHLORIDE
     Dosage: 225 MG, ONCE PER DAY
  252. VENLAFAXINE HYDROCHLORIDE [Suspect]
     Active Substance: VENLAFAXINE HYDROCHLORIDE
     Dosage: UNK,  UNK (UNKNOWN; ;)
  253. VENLAFAXINE HYDROCHLORIDE [Suspect]
     Active Substance: VENLAFAXINE HYDROCHLORIDE
     Dosage: 225 MG, ONCE PER DAY, PROLONGED RELEASE,225 MG, DAILY
  254. VENLAFAXINE HYDROCHLORIDE [Suspect]
     Active Substance: VENLAFAXINE HYDROCHLORIDE
     Dosage: 225 MG, ONCE PER DAY
  255. VENLAFAXINE HYDROCHLORIDE [Suspect]
     Active Substance: VENLAFAXINE HYDROCHLORIDE
     Dosage: UNK,  UNK (UNKNOWN; ;)
  256. SIMETHICONE (DIMETHICONE) [Suspect]
     Active Substance: DIMETHICONE
     Indication: Product used for unknown indication
     Dosage: 750 MILLIGRAM
  257. SIMETHICONE (DIMETHICONE) [Suspect]
     Active Substance: DIMETHICONE
     Dosage: 750 MILLIGRAM (IN PRE-FILLED PEN, MYCLIC PENS)
  258. ZINC OXIDE [Suspect]
     Active Substance: ZINC OXIDE
     Indication: Abdominal discomfort
     Dosage: 750 MILLIGRAM, QD(750 MG, QD)
  259. ZINC OXIDE [Suspect]
     Active Substance: ZINC OXIDE
     Indication: Depression
     Dosage: 750 MILLIGRAM, QD
  260. ZINC OXIDE [Suspect]
     Active Substance: ZINC OXIDE
     Dosage: 750 MG, QD (DIETHYLDITHIOCARBAMATE)
  261. ZINC OXIDE [Suspect]
     Active Substance: ZINC OXIDE
     Dosage: 750 MG
  262. ZINC OXIDE [Suspect]
     Active Substance: ZINC OXIDE
     Dosage: UNK
  263. ZINC OXIDE [Suspect]
     Active Substance: ZINC OXIDE
     Dosage: UNK (DIETHYLDITHIOCARBAMATE)
  264. ZINC OXIDE [Suspect]
     Active Substance: ZINC OXIDE
     Dosage: 750 MILLIGRAM (DIETHYLDITHIOCARBAMATE)
  265. VENLAFAXINE [Suspect]
     Active Substance: VENLAFAXINE HYDROCHLORIDE
     Indication: Depression
     Dosage: 225 MG, QD
  266. VENLAFAXINE [Suspect]
     Active Substance: VENLAFAXINE HYDROCHLORIDE
     Indication: Rheumatoid arthritis
     Dosage: 225 MG, ONCE PER DAY
  267. VENLAFAXINE [Suspect]
     Active Substance: VENLAFAXINE HYDROCHLORIDE
     Indication: Product used for unknown indication
     Dosage: 225 MG, ONCE PER DAY
  268. VENLAFAXINE [Suspect]
     Active Substance: VENLAFAXINE HYDROCHLORIDE
     Dosage: 225 MG, ONCE PER DAY
  269. VENLAFAXINE [Suspect]
     Active Substance: VENLAFAXINE HYDROCHLORIDE
     Dosage: 225 MG, ONCE PER DAY
  270. VENLAFAXINE [Suspect]
     Active Substance: VENLAFAXINE HYDROCHLORIDE
     Dosage: 225 MG, ONCE PER DAY
  271. VENLAFAXINE [Suspect]
     Active Substance: VENLAFAXINE HYDROCHLORIDE
     Dosage: 225 MG, ONCE PER DAY
  272. VENLAFAXINE [Suspect]
     Active Substance: VENLAFAXINE HYDROCHLORIDE
     Dosage: UNK
  273. VENLAFAXINE HYDROCHLORIDE [Suspect]
     Active Substance: VENLAFAXINE HYDROCHLORIDE
     Indication: Depression
     Dosage: 225 MG, QD (PROLONGED RELEASE,225 MG, DAILY)
  274. VENLAFAXINE HYDROCHLORIDE [Suspect]
     Active Substance: VENLAFAXINE HYDROCHLORIDE
     Indication: Rheumatoid arthritis
     Dosage: 225 UNK
  275. VENLAFAXINE HYDROCHLORIDE [Suspect]
     Active Substance: VENLAFAXINE HYDROCHLORIDE
     Dosage: UNK,  UNK
  276. VENLAFAXINE HYDROCHLORIDE [Suspect]
     Active Substance: VENLAFAXINE HYDROCHLORIDE
     Dosage: 225 MG, UNK
  277. VENLAFAXINE HYDROCHLORIDE [Suspect]
     Active Substance: VENLAFAXINE HYDROCHLORIDE
     Dosage: 225 MG, ONCE PER DAY (PROLONGED RELEASE)
  278. VENLAFAXINE HYDROCHLORIDE [Suspect]
     Active Substance: VENLAFAXINE HYDROCHLORIDE
     Dosage: UNK,  UNK
  279. VENLAFAXINE HYDROCHLORIDE [Suspect]
     Active Substance: VENLAFAXINE HYDROCHLORIDE
     Dosage: 225 MG, UNK
  280. VENLAFAXINE HYDROCHLORIDE [Suspect]
     Active Substance: VENLAFAXINE HYDROCHLORIDE
     Dosage: UNK
  281. VENLAFAXINE HYDROCHLORIDE [Suspect]
     Active Substance: VENLAFAXINE HYDROCHLORIDE
     Dosage: 225 MG, ONCE PER DAY (PROLONGED RELEASE)
  282. VENLAFAXINE HYDROCHLORIDE [Suspect]
     Active Substance: VENLAFAXINE HYDROCHLORIDE
     Dosage: UNK,  UNK
  283. VENLAFAXINE HYDROCHLORIDE [Suspect]
     Active Substance: VENLAFAXINE HYDROCHLORIDE
     Dosage: 225 MG, UNK
  284. VENLAFAXINE HYDROCHLORIDE [Suspect]
     Active Substance: VENLAFAXINE HYDROCHLORIDE
     Dosage: UNK
  285. VENLAFAXINE HYDROCHLORIDE [Suspect]
     Active Substance: VENLAFAXINE HYDROCHLORIDE
     Dosage: UNK,  UNK
  286. CARBOCYSTEINE [Suspect]
     Active Substance: CARBOCYSTEINE
     Indication: Rheumatoid arthritis
     Dosage: 750 MILLIGRAM, 1 DOSE PER 1D
     Dates: start: 20100917
  287. CARBOCYSTEINE [Suspect]
     Active Substance: CARBOCYSTEINE
     Indication: Product used for unknown indication
     Dosage: 750 MG, DAILY
     Dates: start: 20200917
  288. CARBOCYSTEINE [Suspect]
     Active Substance: CARBOCYSTEINE
     Indication: Abdominal discomfort
     Dosage: 750 MILLIGRAM, 1 DOSE PER 1D
     Dates: start: 20210917
  289. CARBOCYSTEINE [Suspect]
     Active Substance: CARBOCYSTEINE
     Indication: Off label use
     Dosage: 750 MILLIGRAM, 1 DOSE PER 1D
     Dates: start: 20120917
  290. CARBOCYSTEINE [Suspect]
     Active Substance: CARBOCYSTEINE
     Dosage: 750 MILLIGRAM, 1 DOSE PER 1D
  291. CARBOCYSTEINE [Suspect]
     Active Substance: CARBOCYSTEINE
     Dosage: UNK,  UNK
  292. CARBOCYSTEINE [Suspect]
     Active Substance: CARBOCYSTEINE
     Dosage: 750 MG, ONCE PER DAY
  293. CARBOCYSTEINE [Suspect]
     Active Substance: CARBOCYSTEINE
     Dosage: 750 MG, ONCE PER DAY
  294. CARBOCYSTEINE [Suspect]
     Active Substance: CARBOCYSTEINE
     Dosage: UNK,  UNK
  295. CARBOCYSTEINE [Suspect]
     Active Substance: CARBOCYSTEINE
     Dosage: 750 MG, ONCE PER DAY
  296. CARBOCYSTEINE [Suspect]
     Active Substance: CARBOCYSTEINE
     Dosage: 750 MG, ONCE PER DAY
  297. CARBOCYSTEINE [Suspect]
     Active Substance: CARBOCYSTEINE
     Dosage: UNK,  UNK
  298. CARBOCYSTEINE [Suspect]
     Active Substance: CARBOCYSTEINE
     Dosage: 750 MG, ONCE PER DAY
  299. CARBOCYSTEINE [Suspect]
     Active Substance: CARBOCYSTEINE
     Dosage: UNK,  UNK
  300. CARBOCYSTEINE [Suspect]
     Active Substance: CARBOCYSTEINE
     Dosage: 750 MG, QD (CAPSULE)
  301. CARBOCYSTEINE [Suspect]
     Active Substance: CARBOCYSTEINE
     Dosage: 750 MG, ONCE PER DAY
  302. CARBOCYSTEINE [Suspect]
     Active Substance: CARBOCYSTEINE
     Dosage: 750 MG, QD
  303. CARBOCYSTEINE [Suspect]
     Active Substance: CARBOCYSTEINE
     Dosage: 750 MG, QD
  304. CARBOCYSTEINE [Suspect]
     Active Substance: CARBOCYSTEINE
     Dosage: 750 MILLIGRAM, 1 DOSE PER 1D
  305. PROBIOTICS NOS [Suspect]
     Active Substance: PROBIOTICS NOS
     Indication: Abdominal discomfort
     Dosage: 750 MG
  306. PROBIOTICS NOS [Suspect]
     Active Substance: PROBIOTICS NOS
     Indication: Depression
     Dosage: UNK,   UNK
  307. PROBIOTICS NOS [Suspect]
     Active Substance: PROBIOTICS NOS
     Indication: Pituitary tumour
     Dosage: 750 MG,   UNK
  308. PROBIOTICS NOS [Suspect]
     Active Substance: PROBIOTICS NOS
     Indication: Rheumatoid arthritis
     Dosage: UNK
  309. PROBIOTICS NOS [Suspect]
     Active Substance: PROBIOTICS NOS
     Indication: Abdominal discomfort
     Dosage: UNK,   UNK
  310. PROBIOTICS NOS [Suspect]
     Active Substance: PROBIOTICS NOS
     Dosage: 750 MG,   UNK
  311. PROBIOTICS NOS [Suspect]
     Active Substance: PROBIOTICS NOS
     Dosage: UNK,  UNK
  312. PROBIOTICS NOS [Suspect]
     Active Substance: PROBIOTICS NOS
     Dosage: DAILY DOSE 750 MG
  313. PROBIOTICS NOS [Suspect]
     Active Substance: PROBIOTICS NOS
     Dosage: UNK,   UNK
  314. PROBIOTICS NOS [Suspect]
     Active Substance: PROBIOTICS NOS
     Dosage: 750 MG,   UNK
  315. PROBIOTICS NOS [Suspect]
     Active Substance: PROBIOTICS NOS
     Dosage: UNK,  UNK
  316. PROBIOTICS NOS [Suspect]
     Active Substance: PROBIOTICS NOS
     Dosage: DAILY DOSE 750 MG
  317. PROBIOTICS NOS [Suspect]
     Active Substance: PROBIOTICS NOS
     Dosage: UNK,  UNK
  318. PROBIOTICS NOS [Suspect]
     Active Substance: PROBIOTICS NOS
     Dosage: UNK
  319. PROBIOTICS NOS [Suspect]
     Active Substance: PROBIOTICS NOS
     Dosage: 750 MILLIGRAM
  320. PROBIOTICS NOS [Suspect]
     Active Substance: PROBIOTICS NOS
     Dosage: UNK
  321. PROBIOTICS NOS [Suspect]
     Active Substance: PROBIOTICS NOS
     Dosage: UNK
  322. CIPROFLOXACIN HYDROCHLORIDE [Suspect]
     Active Substance: CIPROFLOXACIN HYDROCHLORIDE
     Indication: Depression
     Dosage: UNK
  323. CIPROFLOXACIN HYDROCHLORIDE [Suspect]
     Active Substance: CIPROFLOXACIN HYDROCHLORIDE
     Indication: Abdominal discomfort
     Dosage: 1000 MG, QD
     Dates: start: 20100917
  324. CIPROFLOXACIN HYDROCHLORIDE [Suspect]
     Active Substance: CIPROFLOXACIN HYDROCHLORIDE
     Indication: Rheumatoid arthritis
     Dosage: 1000 MG, QD
     Dates: start: 20200917
  325. CIPROFLOXACIN HYDROCHLORIDE [Suspect]
     Active Substance: CIPROFLOXACIN HYDROCHLORIDE
     Indication: Product used for unknown indication
     Dosage: 1000 MG, QD
  326. CIPROFLOXACIN HYDROCHLORIDE [Suspect]
     Active Substance: CIPROFLOXACIN HYDROCHLORIDE
     Indication: Abdominal discomfort
     Dosage: UNK
  327. CIPROFLOXACIN HYDROCHLORIDE [Suspect]
     Active Substance: CIPROFLOXACIN HYDROCHLORIDE
     Dosage: 1000 MILLIGRAM, QD
  328. CIPROFLOXACIN HYDROCHLORIDE [Suspect]
     Active Substance: CIPROFLOXACIN HYDROCHLORIDE
     Dosage: 75 MILLIGRAM, QD
     Dates: start: 20100917
  329. CIPROFLOXACIN HYDROCHLORIDE [Suspect]
     Active Substance: CIPROFLOXACIN HYDROCHLORIDE
     Dosage: UNK
  330. CIPROFLOXACIN HYDROCHLORIDE [Suspect]
     Active Substance: CIPROFLOXACIN HYDROCHLORIDE
     Dosage: UNK
  331. CARBOCYSTEINE [Suspect]
     Active Substance: CARBOCYSTEINE
     Indication: Depression
     Dosage: 750 MG, QD
     Dates: start: 20100917
  332. CARBOCYSTEINE [Suspect]
     Active Substance: CARBOCYSTEINE
     Indication: Rheumatoid arthritis
     Dosage: 750 MG, QD
     Dates: start: 20200917
  333. CARBOCYSTEINE [Suspect]
     Active Substance: CARBOCYSTEINE
     Dosage: 750 MG, QD
     Dates: start: 20210917
  334. CARBOCYSTEINE [Suspect]
     Active Substance: CARBOCYSTEINE
     Dosage: 750 MG, QD
     Dates: start: 20120917
  335. CARBOCYSTEINE [Suspect]
     Active Substance: CARBOCYSTEINE
     Dosage: 750 MG
  336. ORUVAIL [Concomitant]
     Active Substance: KETOPROFEN
     Indication: Empty sella syndrome
     Dosage: UNK
  337. ORUVAIL [Concomitant]
     Active Substance: KETOPROFEN
     Indication: Product used for unknown indication
     Dosage: UNK
  338. ORUVAIL [Concomitant]
     Active Substance: KETOPROFEN
     Indication: Product used for unknown indication
     Dosage: UNK
  339. ORUVAIL [Concomitant]
     Active Substance: KETOPROFEN
     Indication: Product used for unknown indication
     Dosage: UNK
  340. ORUVAIL [Concomitant]
     Active Substance: KETOPROFEN
     Dosage: UNK
  341. ORUVAIL [Concomitant]
     Active Substance: KETOPROFEN
     Dosage: UNK
  342. ORUVAIL [Concomitant]
     Active Substance: KETOPROFEN
     Dosage: UNK
  343. ORUVAIL [Concomitant]
     Active Substance: KETOPROFEN
     Dosage: UNK
  344. ORUVAIL [Concomitant]
     Active Substance: KETOPROFEN
     Dosage: UNK
  345. ORUVAIL [Concomitant]
     Active Substance: KETOPROFEN
     Dosage: UNK
  346. ORUVAIL [Concomitant]
     Active Substance: KETOPROFEN
     Dosage: UNK
  347. ORUVAIL [Concomitant]
     Active Substance: KETOPROFEN
     Dosage: UNK
  348. ORUVAIL [Concomitant]
     Active Substance: KETOPROFEN
     Dosage: UNK,  UNK
  349. ORUVAIL [Concomitant]
     Active Substance: KETOPROFEN
     Dosage: UNK,  UNK
  350. ORUVAIL [Concomitant]
     Active Substance: KETOPROFEN
     Dosage: UNK,  UNK
  351. ORUVAIL [Concomitant]
     Active Substance: KETOPROFEN
     Dosage: UNK,  UNK
  352. ORUVAIL [Concomitant]
     Active Substance: KETOPROFEN
     Dosage: UNK
  353. ORUVAIL [Concomitant]
     Active Substance: KETOPROFEN
  354. ORUVAIL [Concomitant]
     Active Substance: KETOPROFEN
  355. ORUVAIL [Concomitant]
     Active Substance: KETOPROFEN
  356. ORUVAIL [Concomitant]
     Active Substance: KETOPROFEN
  357. ORUVAIL [Concomitant]
     Active Substance: KETOPROFEN
  358. ORUVAIL [Concomitant]
     Active Substance: KETOPROFEN
  359. ORUVAIL [Concomitant]
     Active Substance: KETOPROFEN
  360. ORUVAIL [Concomitant]
     Active Substance: KETOPROFEN
  361. ORUVAIL [Concomitant]
     Active Substance: KETOPROFEN
  362. ORUVAIL [Concomitant]
     Active Substance: KETOPROFEN
  363. ORUVAIL [Concomitant]
     Active Substance: KETOPROFEN
  364. ORUVAIL [Concomitant]
     Active Substance: KETOPROFEN
  365. ORUVAIL [Concomitant]
     Active Substance: KETOPROFEN
  366. ORUVAIL [Concomitant]
     Active Substance: KETOPROFEN
  367. ORUVAIL [Concomitant]
     Active Substance: KETOPROFEN
  368. ORUVAIL [Concomitant]
     Active Substance: KETOPROFEN
  369. ORUVAIL [Concomitant]
     Active Substance: KETOPROFEN
  370. ORUVAIL [Concomitant]
     Active Substance: KETOPROFEN
  371. ORUVAIL [Concomitant]
     Active Substance: KETOPROFEN
  372. ORUVAIL [Concomitant]
     Active Substance: KETOPROFEN
  373. ORUVAIL [Concomitant]
     Active Substance: KETOPROFEN
  374. ORUVAIL [Concomitant]
     Active Substance: KETOPROFEN
  375. ORUVAIL [Concomitant]
     Active Substance: KETOPROFEN
  376. ORUVAIL [Concomitant]
     Active Substance: KETOPROFEN
     Dosage: UNK,  UNK
  377. ORUVAIL [Concomitant]
     Active Substance: KETOPROFEN
     Dosage: UNK,  UNK
  378. ORUVAIL [Concomitant]
     Active Substance: KETOPROFEN
     Dosage: UNK
  379. ORUVAIL [Concomitant]
     Active Substance: KETOPROFEN
  380. ORUVAIL [Concomitant]
     Active Substance: KETOPROFEN
  381. ORUVAIL [Concomitant]
     Active Substance: KETOPROFEN
  382. ORUVAIL [Concomitant]
     Active Substance: KETOPROFEN
  383. ORUVAIL [Concomitant]
     Active Substance: KETOPROFEN
  384. ORUVAIL [Concomitant]
     Active Substance: KETOPROFEN
  385. ORUVAIL [Concomitant]
     Active Substance: KETOPROFEN
     Dosage: UNK
  386. ORUVAIL [Concomitant]
     Active Substance: KETOPROFEN
  387. ORUVAIL [Concomitant]
     Active Substance: KETOPROFEN
  388. ORUVAIL [Concomitant]
     Active Substance: KETOPROFEN
  389. ORUVAIL [Concomitant]
     Active Substance: KETOPROFEN
  390. ORUVAIL [Concomitant]
     Active Substance: KETOPROFEN
  391. ORUVAIL [Concomitant]
     Active Substance: KETOPROFEN
  392. ORUVAIL [Concomitant]
     Active Substance: KETOPROFEN
  393. ORUVAIL [Concomitant]
     Active Substance: KETOPROFEN
  394. ORUVAIL [Concomitant]
     Active Substance: KETOPROFEN
  395. ORUVAIL [Concomitant]
     Active Substance: KETOPROFEN
  396. ORUVAIL [Concomitant]
     Active Substance: KETOPROFEN
  397. ORUVAIL [Concomitant]
     Active Substance: KETOPROFEN
  398. ORUVAIL [Concomitant]
     Active Substance: KETOPROFEN
  399. ORUVAIL [Concomitant]
     Active Substance: KETOPROFEN
  400. ORUVAIL [Concomitant]
     Active Substance: KETOPROFEN
  401. ORUVAIL [Concomitant]
     Active Substance: KETOPROFEN
  402. ORUVAIL [Concomitant]
     Active Substance: KETOPROFEN
     Dosage: UNK,  UNK
  403. ORUVAIL [Concomitant]
     Active Substance: KETOPROFEN
     Dosage: UNK,  UNK
  404. ORUVAIL [Concomitant]
     Active Substance: KETOPROFEN
     Dosage: UNK
  405. ORUVAIL [Concomitant]
     Active Substance: KETOPROFEN
     Dosage: UNK
  406. ORUVAIL [Concomitant]
     Active Substance: KETOPROFEN
     Dosage: UNK
  407. ORUVAIL [Concomitant]
     Active Substance: KETOPROFEN
     Dosage: UNK
  408. ORUVAIL [Concomitant]
     Active Substance: KETOPROFEN
     Dosage: UNK
  409. ORUVAIL [Concomitant]
     Active Substance: KETOPROFEN
     Dosage: UNK
  410. ORUVAIL [Concomitant]
     Active Substance: KETOPROFEN
     Dosage: UNK
  411. EZETIMIBE [Concomitant]
     Active Substance: EZETIMIBE
     Indication: Product used for unknown indication
     Dosage: UNK
  412. EZETIMIBE [Concomitant]
     Active Substance: EZETIMIBE
     Indication: Product used for unknown indication
     Dosage: UNK
  413. EZETIMIBE [Concomitant]
     Active Substance: EZETIMIBE
     Indication: Depression
     Dosage: 50 MG, QW, MYCLIC PEN
     Dates: start: 20100917
  414. EZETIMIBE [Concomitant]
     Active Substance: EZETIMIBE
     Indication: Product used for unknown indication
     Dosage: 50 MG, QW, MYCLIC PEN
     Dates: start: 20210917
  415. EZETIMIBE [Concomitant]
     Active Substance: EZETIMIBE
     Dosage: UNK,  UNK
  416. EZETIMIBE [Concomitant]
     Active Substance: EZETIMIBE
     Dosage: UNK,  UNK
  417. EZETIMIBE [Concomitant]
     Active Substance: EZETIMIBE
     Dosage: UNK
  418. EZETIMIBE [Concomitant]
     Active Substance: EZETIMIBE
     Dosage: UNK
  419. EZETIMIBE [Concomitant]
     Active Substance: EZETIMIBE
     Dosage: UNK
  420. EZETIMIBE [Concomitant]
     Active Substance: EZETIMIBE
     Dosage: UNK
  421. EZETIMIBE [Concomitant]
     Active Substance: EZETIMIBE
     Dosage: UNK
  422. EZETIMIBE [Concomitant]
     Active Substance: EZETIMIBE
     Dosage: UNK
  423. EZETIMIBE [Concomitant]
     Active Substance: EZETIMIBE
     Dosage: UNK
  424. EZETIMIBE [Concomitant]
     Active Substance: EZETIMIBE
     Dosage: UNK
  425. EZETIMIBE [Concomitant]
     Active Substance: EZETIMIBE
     Dosage: UNK
  426. EZETIMIBE [Concomitant]
     Active Substance: EZETIMIBE
     Dosage: UNK
  427. EZETIMIBE [Concomitant]
     Active Substance: EZETIMIBE
     Dosage: UNK
  428. EZETIMIBE [Concomitant]
     Active Substance: EZETIMIBE
     Dosage: UNK
  429. EZETIMIBE [Concomitant]
     Active Substance: EZETIMIBE
     Dosage: UNK
  430. EZETIMIBE [Concomitant]
     Active Substance: EZETIMIBE
     Dosage: UNK
  431. EZETIMIBE [Concomitant]
     Active Substance: EZETIMIBE
     Dosage: UNK,  UNK
  432. EZETIMIBE [Concomitant]
     Active Substance: EZETIMIBE
     Dosage: UNK
  433. EZETIMIBE [Concomitant]
     Active Substance: EZETIMIBE
     Dosage: UNK
  434. EZETIMIBE [Concomitant]
     Active Substance: EZETIMIBE
     Dosage: UNK
  435. EZETIMIBE [Concomitant]
     Active Substance: EZETIMIBE
     Dosage: UNK
  436. EZETIMIBE [Concomitant]
     Active Substance: EZETIMIBE
     Dosage: UNK
  437. EZETIMIBE [Concomitant]
     Active Substance: EZETIMIBE
     Dosage: UNK
  438. EZETIMIBE [Concomitant]
     Active Substance: EZETIMIBE
     Dosage: UNK
  439. EZETIMIBE [Concomitant]
     Active Substance: EZETIMIBE
     Dosage: UNK
  440. EZETIMIBE [Concomitant]
     Active Substance: EZETIMIBE
     Dosage: UNK
  441. EZETIMIBE [Concomitant]
     Active Substance: EZETIMIBE
     Dosage: UNK
  442. EZETIMIBE [Concomitant]
     Active Substance: EZETIMIBE
     Dosage: UNK
  443. EZETIMIBE [Concomitant]
     Active Substance: EZETIMIBE
     Dosage: UNK
  444. EZETIMIBE [Concomitant]
     Active Substance: EZETIMIBE
     Dosage: UNK
  445. EZETIMIBE [Concomitant]
     Active Substance: EZETIMIBE
     Dosage: UNK
  446. EZETIMIBE [Concomitant]
     Active Substance: EZETIMIBE
     Dosage: UNK,  UNK
  447. EZETIMIBE [Concomitant]
     Active Substance: EZETIMIBE
     Dosage: UNK
  448. EZETIMIBE [Concomitant]
     Active Substance: EZETIMIBE
     Dosage: 50 MG, QW, MYCLIC PEN
  449. EZETIMIBE [Concomitant]
     Active Substance: EZETIMIBE
     Dosage: UNK
  450. EZETIMIBE [Concomitant]
     Active Substance: EZETIMIBE
     Dosage: UNK
  451. EZETIMIBE [Concomitant]
     Active Substance: EZETIMIBE
     Dosage: UNK
  452. ACTIVATED CHARCOAL [Concomitant]
     Active Substance: ACTIVATED CHARCOAL
     Indication: Product used for unknown indication
     Dosage: 750 MILLIGRAM, QD
  453. ACTIVATED CHARCOAL [Concomitant]
     Active Substance: ACTIVATED CHARCOAL
     Indication: Depression
     Dosage: 750 MILLIGRAM, QD
  454. ACTIVATED CHARCOAL [Concomitant]
     Active Substance: ACTIVATED CHARCOAL
     Indication: Product used for unknown indication
     Dosage: 750 MILLIGRAM, QD
  455. ACTIVATED CHARCOAL [Concomitant]
     Active Substance: ACTIVATED CHARCOAL
     Dosage: 750 MILLIGRAM, QD
  456. ACTIVATED CHARCOAL [Concomitant]
     Active Substance: ACTIVATED CHARCOAL
     Dosage: 750 MILLIGRAM, QD
  457. ACTIVATED CHARCOAL [Concomitant]
     Active Substance: ACTIVATED CHARCOAL
     Dosage: 750 MILLIGRAM, QD
  458. ACTIVATED CHARCOAL [Concomitant]
     Active Substance: ACTIVATED CHARCOAL
     Dosage: UNK
  459. ACTIVATED CHARCOAL [Concomitant]
     Active Substance: ACTIVATED CHARCOAL
     Dosage: 750 MILLIGRAM, QD
  460. ACTIVATED CHARCOAL [Concomitant]
     Active Substance: ACTIVATED CHARCOAL
     Dosage: 750 MILLIGRAM, QD
  461. BENDROFLUMETHIAZIDE [Concomitant]
     Active Substance: BENDROFLUMETHIAZIDE
     Indication: Pituitary tumour
     Dosage: UNK
  462. BENDROFLUMETHIAZIDE [Concomitant]
     Active Substance: BENDROFLUMETHIAZIDE
     Indication: Depression
     Dosage: UNK
  463. BENDROFLUMETHIAZIDE [Concomitant]
     Active Substance: BENDROFLUMETHIAZIDE
     Indication: Product used for unknown indication
     Dosage: UNK
  464. BENDROFLUMETHIAZIDE [Concomitant]
     Active Substance: BENDROFLUMETHIAZIDE
     Indication: Product used for unknown indication
     Dosage: 750 MILLIGRAM
  465. BENDROFLUMETHIAZIDE [Concomitant]
     Active Substance: BENDROFLUMETHIAZIDE
     Indication: Pituitary tumour
     Dosage: UNK
  466. BENDROFLUMETHIAZIDE [Concomitant]
     Active Substance: BENDROFLUMETHIAZIDE
     Dosage: UNK
  467. BENDROFLUMETHIAZIDE [Concomitant]
     Active Substance: BENDROFLUMETHIAZIDE
     Dosage: UNK
  468. BENDROFLUMETHIAZIDE [Concomitant]
     Active Substance: BENDROFLUMETHIAZIDE
     Dosage: UNK
  469. BENDROFLUMETHIAZIDE [Concomitant]
     Active Substance: BENDROFLUMETHIAZIDE
     Dosage: UNK
  470. BENDROFLUMETHIAZIDE [Concomitant]
     Active Substance: BENDROFLUMETHIAZIDE
     Dosage: UNK
  471. BENDROFLUMETHIAZIDE [Concomitant]
     Active Substance: BENDROFLUMETHIAZIDE
     Dosage: 750 MILLIGRAM
  472. BENDROFLUMETHIAZIDE [Concomitant]
     Active Substance: BENDROFLUMETHIAZIDE
     Dosage: UNK,  UNK
  473. BENDROFLUMETHIAZIDE [Concomitant]
     Active Substance: BENDROFLUMETHIAZIDE
     Dosage: UNK,  UNK
  474. BENDROFLUMETHIAZIDE [Concomitant]
     Active Substance: BENDROFLUMETHIAZIDE
     Dosage: UNK,  UNK
  475. BENDROFLUMETHIAZIDE [Concomitant]
     Active Substance: BENDROFLUMETHIAZIDE
     Dosage: UNK,  UNK
  476. BENDROFLUMETHIAZIDE [Concomitant]
     Active Substance: BENDROFLUMETHIAZIDE
     Dosage: UNK,  UNK
  477. BENDROFLUMETHIAZIDE [Concomitant]
     Active Substance: BENDROFLUMETHIAZIDE
     Dosage: UNK,  UNK
  478. BENDROFLUMETHIAZIDE [Concomitant]
     Active Substance: BENDROFLUMETHIAZIDE
     Dosage: 750 MG
  479. BENDROFLUMETHIAZIDE [Concomitant]
     Active Substance: BENDROFLUMETHIAZIDE
     Dosage: UNK
  480. BENDROFLUMETHIAZIDE [Concomitant]
     Active Substance: BENDROFLUMETHIAZIDE
     Dosage: UNK
  481. BENDROFLUMETHIAZIDE [Concomitant]
     Active Substance: BENDROFLUMETHIAZIDE
     Dosage: UNK
  482. BENDROFLUMETHIAZIDE [Concomitant]
     Active Substance: BENDROFLUMETHIAZIDE
     Dosage: UNK
  483. BENDROFLUMETHIAZIDE [Concomitant]
     Active Substance: BENDROFLUMETHIAZIDE
     Dosage: UNK
  484. BENDROFLUMETHIAZIDE [Concomitant]
     Active Substance: BENDROFLUMETHIAZIDE
     Dosage: UNK
  485. BENDROFLUMETHIAZIDE [Concomitant]
     Active Substance: BENDROFLUMETHIAZIDE
     Dosage: UNK
  486. BENDROFLUMETHIAZIDE [Concomitant]
     Active Substance: BENDROFLUMETHIAZIDE
     Dosage: UNK
  487. BENDROFLUMETHIAZIDE [Concomitant]
     Active Substance: BENDROFLUMETHIAZIDE
     Dosage: UNK
  488. BENDROFLUMETHIAZIDE [Concomitant]
     Active Substance: BENDROFLUMETHIAZIDE
     Dosage: UNK
  489. BENDROFLUMETHIAZIDE [Concomitant]
     Active Substance: BENDROFLUMETHIAZIDE
     Dosage: UNK
  490. BENDROFLUMETHIAZIDE [Concomitant]
     Active Substance: BENDROFLUMETHIAZIDE
     Dosage: UNK
  491. BENDROFLUMETHIAZIDE [Concomitant]
     Active Substance: BENDROFLUMETHIAZIDE
     Dosage: UNK
  492. BENDROFLUMETHIAZIDE [Concomitant]
     Active Substance: BENDROFLUMETHIAZIDE
     Dosage: UNK
  493. BENDROFLUMETHIAZIDE [Concomitant]
     Active Substance: BENDROFLUMETHIAZIDE
     Dosage: UNK,  UNK
  494. BENDROFLUMETHIAZIDE [Concomitant]
     Active Substance: BENDROFLUMETHIAZIDE
     Dosage: UNK,  UNK
  495. BENDROFLUMETHIAZIDE [Concomitant]
     Active Substance: BENDROFLUMETHIAZIDE
     Dosage: UNK,  UNK
  496. BENDROFLUMETHIAZIDE [Concomitant]
     Active Substance: BENDROFLUMETHIAZIDE
     Dosage: 750 MG
  497. BENDROFLUMETHIAZIDE [Concomitant]
     Active Substance: BENDROFLUMETHIAZIDE
     Dosage: UNK
  498. BENDROFLUMETHIAZIDE [Concomitant]
     Active Substance: BENDROFLUMETHIAZIDE
     Dosage: UNK
  499. BENDROFLUMETHIAZIDE [Concomitant]
     Active Substance: BENDROFLUMETHIAZIDE
     Dosage: UNK
  500. BENDROFLUMETHIAZIDE [Concomitant]
     Active Substance: BENDROFLUMETHIAZIDE
     Dosage: UNK
  501. BENDROFLUMETHIAZIDE [Concomitant]
     Active Substance: BENDROFLUMETHIAZIDE
     Dosage: UNK
  502. BENDROFLUMETHIAZIDE [Concomitant]
     Active Substance: BENDROFLUMETHIAZIDE
     Dosage: UNK
  503. BENDROFLUMETHIAZIDE [Concomitant]
     Active Substance: BENDROFLUMETHIAZIDE
     Dosage: UNK
  504. BENDROFLUMETHIAZIDE [Concomitant]
     Active Substance: BENDROFLUMETHIAZIDE
     Dosage: UNK
  505. BENDROFLUMETHIAZIDE [Concomitant]
     Active Substance: BENDROFLUMETHIAZIDE
     Dosage: UNK
  506. BENDROFLUMETHIAZIDE [Concomitant]
     Active Substance: BENDROFLUMETHIAZIDE
     Dosage: UNK
  507. BENDROFLUMETHIAZIDE [Concomitant]
     Active Substance: BENDROFLUMETHIAZIDE
     Dosage: UNK
  508. BENDROFLUMETHIAZIDE [Concomitant]
     Active Substance: BENDROFLUMETHIAZIDE
     Dosage: UNK
  509. BENDROFLUMETHIAZIDE [Concomitant]
     Active Substance: BENDROFLUMETHIAZIDE
     Dosage: UNK
  510. BENDROFLUMETHIAZIDE [Concomitant]
     Active Substance: BENDROFLUMETHIAZIDE
     Dosage: UNK
  511. BENDROFLUMETHIAZIDE [Concomitant]
     Active Substance: BENDROFLUMETHIAZIDE
     Dosage: UNK,  UNK
  512. BENDROFLUMETHIAZIDE [Concomitant]
     Active Substance: BENDROFLUMETHIAZIDE
     Dosage: UNK,  UNK
  513. BENDROFLUMETHIAZIDE [Concomitant]
     Active Substance: BENDROFLUMETHIAZIDE
     Dosage: UNK,  UNK
  514. BENDROFLUMETHIAZIDE [Concomitant]
     Active Substance: BENDROFLUMETHIAZIDE
     Dosage: UNK
  515. BENDROFLUMETHIAZIDE [Concomitant]
     Active Substance: BENDROFLUMETHIAZIDE
     Dosage: UNK
  516. BENDROFLUMETHIAZIDE [Concomitant]
     Active Substance: BENDROFLUMETHIAZIDE
     Dosage: UNK
  517. BENDROFLUMETHIAZIDE [Concomitant]
     Active Substance: BENDROFLUMETHIAZIDE
     Dosage: UNK
  518. BENDROFLUMETHIAZIDE [Concomitant]
     Active Substance: BENDROFLUMETHIAZIDE
     Dosage: UNK
  519. BENDROFLUMETHIAZIDE [Concomitant]
     Active Substance: BENDROFLUMETHIAZIDE
     Dosage: UNK
  520. BENDROFLUMETHIAZIDE [Concomitant]
     Active Substance: BENDROFLUMETHIAZIDE
     Dosage: UNK
  521. BENDROFLUMETHIAZIDE [Concomitant]
     Active Substance: BENDROFLUMETHIAZIDE
     Dosage: UNK
  522. BENDROFLUMETHIAZIDE [Concomitant]
     Active Substance: BENDROFLUMETHIAZIDE
     Dosage: UNK
  523. BENDROFLUMETHIAZIDE [Concomitant]
     Active Substance: BENDROFLUMETHIAZIDE
     Dosage: UNK
  524. BENDROFLUMETHIAZIDE [Concomitant]
     Active Substance: BENDROFLUMETHIAZIDE
     Dosage: UNK
  525. CABERGOLINE [Concomitant]
     Active Substance: CABERGOLINE
     Indication: Empty sella syndrome
     Dosage: UNK
  526. CABERGOLINE [Concomitant]
     Active Substance: CABERGOLINE
     Indication: Pituitary tumour
     Dosage: UNK
  527. CABERGOLINE [Concomitant]
     Active Substance: CABERGOLINE
     Indication: Product used for unknown indication
     Dosage: UNK
  528. CABERGOLINE [Concomitant]
     Active Substance: CABERGOLINE
     Indication: Pituitary tumour
     Dosage: UNK
  529. CABERGOLINE [Concomitant]
     Active Substance: CABERGOLINE
     Indication: Rheumatoid arthritis
     Dosage: UNK
  530. CABERGOLINE [Concomitant]
     Active Substance: CABERGOLINE
     Indication: Product used for unknown indication
     Dosage: UNK
  531. CABERGOLINE [Concomitant]
     Active Substance: CABERGOLINE
     Indication: Pituitary tumour
     Dosage: UNK
  532. CABERGOLINE [Concomitant]
     Active Substance: CABERGOLINE
     Indication: Pituitary tumour
     Dosage: UNK
  533. CABERGOLINE [Concomitant]
     Active Substance: CABERGOLINE
     Indication: Pituitary tumour
     Dosage: UNK
  534. CABERGOLINE [Concomitant]
     Active Substance: CABERGOLINE
     Indication: Empty sella syndrome
     Dosage: UNK
  535. CABERGOLINE [Concomitant]
     Active Substance: CABERGOLINE
     Dosage: UNK
  536. CABERGOLINE [Concomitant]
     Active Substance: CABERGOLINE
     Dosage: UNK
  537. CABERGOLINE [Concomitant]
     Active Substance: CABERGOLINE
     Dosage: UNK,  UNK
  538. CABERGOLINE [Concomitant]
     Active Substance: CABERGOLINE
     Dosage: UNK,  UNK
  539. CABERGOLINE [Concomitant]
     Active Substance: CABERGOLINE
     Dosage: UNK,  UNK
  540. CABERGOLINE [Concomitant]
     Active Substance: CABERGOLINE
     Dosage: UNK,  UNK
  541. CABERGOLINE [Concomitant]
     Active Substance: CABERGOLINE
     Dosage: UNK,  UNK
  542. CABERGOLINE [Concomitant]
     Active Substance: CABERGOLINE
     Dosage: UNK,  UNK
  543. CABERGOLINE [Concomitant]
     Active Substance: CABERGOLINE
     Dosage: UNK
  544. CABERGOLINE [Concomitant]
     Active Substance: CABERGOLINE
     Dosage: UNK
  545. CABERGOLINE [Concomitant]
     Active Substance: CABERGOLINE
     Dosage: UNK
  546. CABERGOLINE [Concomitant]
     Active Substance: CABERGOLINE
     Dosage: UNK
  547. CABERGOLINE [Concomitant]
     Active Substance: CABERGOLINE
     Dosage: UNK
  548. CABERGOLINE [Concomitant]
     Active Substance: CABERGOLINE
     Dosage: UNK
  549. CABERGOLINE [Concomitant]
     Active Substance: CABERGOLINE
     Dosage: UNK
  550. CABERGOLINE [Concomitant]
     Active Substance: CABERGOLINE
     Dosage: UNK
  551. CABERGOLINE [Concomitant]
     Active Substance: CABERGOLINE
     Dosage: UNK
  552. CABERGOLINE [Concomitant]
     Active Substance: CABERGOLINE
     Dosage: UNK
  553. CABERGOLINE [Concomitant]
     Active Substance: CABERGOLINE
     Dosage: UNK
  554. CABERGOLINE [Concomitant]
     Active Substance: CABERGOLINE
     Dosage: UNK
  555. CABERGOLINE [Concomitant]
     Active Substance: CABERGOLINE
     Dosage: UNK
  556. CABERGOLINE [Concomitant]
     Active Substance: CABERGOLINE
     Dosage: UNK
  557. CABERGOLINE [Concomitant]
     Active Substance: CABERGOLINE
     Dosage: UNK
  558. CABERGOLINE [Concomitant]
     Active Substance: CABERGOLINE
     Dosage: UNK
  559. CABERGOLINE [Concomitant]
     Active Substance: CABERGOLINE
     Dosage: UNK
  560. CABERGOLINE [Concomitant]
     Active Substance: CABERGOLINE
     Dosage: UNK
  561. CABERGOLINE [Concomitant]
     Active Substance: CABERGOLINE
     Dosage: UNK
  562. CABERGOLINE [Concomitant]
     Active Substance: CABERGOLINE
     Dosage: UNK
  563. CABERGOLINE [Concomitant]
     Active Substance: CABERGOLINE
     Dosage: UNK
  564. CABERGOLINE [Concomitant]
     Active Substance: CABERGOLINE
     Dosage: UNK
  565. CABERGOLINE [Concomitant]
     Active Substance: CABERGOLINE
     Dosage: UNK,  UNK
  566. CABERGOLINE [Concomitant]
     Active Substance: CABERGOLINE
     Dosage: UNK,  UNK
  567. CABERGOLINE [Concomitant]
     Active Substance: CABERGOLINE
     Dosage: UNK,  UNK
  568. CABERGOLINE [Concomitant]
     Active Substance: CABERGOLINE
     Dosage: UNK
  569. CABERGOLINE [Concomitant]
     Active Substance: CABERGOLINE
     Dosage: UNK
  570. CABERGOLINE [Concomitant]
     Active Substance: CABERGOLINE
     Dosage: UNK
  571. CABERGOLINE [Concomitant]
     Active Substance: CABERGOLINE
     Dosage: UNK
  572. CABERGOLINE [Concomitant]
     Active Substance: CABERGOLINE
     Dosage: UNK
  573. CABERGOLINE [Concomitant]
     Active Substance: CABERGOLINE
     Dosage: UNK
  574. CABERGOLINE [Concomitant]
     Active Substance: CABERGOLINE
     Dosage: UNK
  575. CABERGOLINE [Concomitant]
     Active Substance: CABERGOLINE
  576. CABERGOLINE [Concomitant]
     Active Substance: CABERGOLINE
  577. CABERGOLINE [Concomitant]
     Active Substance: CABERGOLINE
  578. CABERGOLINE [Concomitant]
     Active Substance: CABERGOLINE
  579. CABERGOLINE [Concomitant]
     Active Substance: CABERGOLINE
  580. CABERGOLINE [Concomitant]
     Active Substance: CABERGOLINE
  581. CABERGOLINE [Concomitant]
     Active Substance: CABERGOLINE
  582. CABERGOLINE [Concomitant]
     Active Substance: CABERGOLINE
  583. CABERGOLINE [Concomitant]
     Active Substance: CABERGOLINE
  584. CABERGOLINE [Concomitant]
     Active Substance: CABERGOLINE
  585. CABERGOLINE [Concomitant]
     Active Substance: CABERGOLINE
  586. CABERGOLINE [Concomitant]
     Active Substance: CABERGOLINE
  587. CABERGOLINE [Concomitant]
     Active Substance: CABERGOLINE
  588. CABERGOLINE [Concomitant]
     Active Substance: CABERGOLINE
  589. CABERGOLINE [Concomitant]
     Active Substance: CABERGOLINE
  590. CABERGOLINE [Concomitant]
     Active Substance: CABERGOLINE
     Dosage: UNK,  UNK
  591. CABERGOLINE [Concomitant]
     Active Substance: CABERGOLINE
     Dosage: UNK,  UNK
  592. CABERGOLINE [Concomitant]
     Active Substance: CABERGOLINE
     Dosage: UNK,  UNK
  593. CABERGOLINE [Concomitant]
     Active Substance: CABERGOLINE
     Dosage: UNK
  594. CABERGOLINE [Concomitant]
     Active Substance: CABERGOLINE
     Dosage: UNK
  595. CABERGOLINE [Concomitant]
     Active Substance: CABERGOLINE
     Dosage: UNK
  596. CABERGOLINE [Concomitant]
     Active Substance: CABERGOLINE
     Dosage: UNK
  597. FOLIC ACID [Concomitant]
     Active Substance: FOLIC ACID
     Indication: Product used for unknown indication
     Dosage: UNK
  598. FOLIC ACID [Concomitant]
     Active Substance: FOLIC ACID
     Indication: Product used for unknown indication
     Dosage: UNK
  599. FOLIC ACID [Concomitant]
     Active Substance: FOLIC ACID
     Indication: Abdominal discomfort
     Dosage: UNK
  600. FOLIC ACID [Concomitant]
     Active Substance: FOLIC ACID
     Indication: Abdominal discomfort
     Dosage: UNK,  UNK
  601. FOLIC ACID [Concomitant]
     Active Substance: FOLIC ACID
     Indication: Product used for unknown indication
     Dosage: UNK,  UNK
  602. FOLIC ACID [Concomitant]
     Active Substance: FOLIC ACID
     Dosage: UNK,  UNK
  603. FOLIC ACID [Concomitant]
     Active Substance: FOLIC ACID
     Dosage: UNK,  UNK
  604. FOLIC ACID [Concomitant]
     Active Substance: FOLIC ACID
     Dosage: UNK
  605. FOLIC ACID [Concomitant]
     Active Substance: FOLIC ACID
     Dosage: UNK
  606. FOLIC ACID [Concomitant]
     Active Substance: FOLIC ACID
     Dosage: UNK
  607. FOLIC ACID [Concomitant]
     Active Substance: FOLIC ACID
  608. FOLIC ACID [Concomitant]
     Active Substance: FOLIC ACID
     Dosage: UNK
  609. FOLIC ACID [Concomitant]
     Active Substance: FOLIC ACID
     Dosage: UNK
  610. FOLIC ACID [Concomitant]
     Active Substance: FOLIC ACID
     Dosage: UNK
  611. FOLIC ACID [Concomitant]
     Active Substance: FOLIC ACID
     Dosage: UNK
  612. FOLIC ACID [Concomitant]
     Active Substance: FOLIC ACID
     Dosage: UNK
  613. FOLIC ACID [Concomitant]
     Active Substance: FOLIC ACID
     Dosage: UNK
  614. FOLIC ACID [Concomitant]
     Active Substance: FOLIC ACID
     Dosage: UNK
  615. FOLIC ACID [Concomitant]
     Active Substance: FOLIC ACID
     Dosage: UNK
  616. FOLIC ACID [Concomitant]
     Active Substance: FOLIC ACID
     Dosage: UNK
  617. FOLIC ACID [Concomitant]
     Active Substance: FOLIC ACID
     Dosage: UNK
  618. FOLIC ACID [Concomitant]
     Active Substance: FOLIC ACID
     Dosage: UNK
  619. FOLIC ACID [Concomitant]
     Active Substance: FOLIC ACID
     Dosage: UNK,  UNK
  620. FOLIC ACID [Concomitant]
     Active Substance: FOLIC ACID
     Dosage: UNK,  UNK
  621. FOLIC ACID [Concomitant]
     Active Substance: FOLIC ACID
     Dosage: UNK
  622. FOLIC ACID [Concomitant]
     Active Substance: FOLIC ACID
     Dosage: UNK
  623. FOLIC ACID [Concomitant]
     Active Substance: FOLIC ACID
     Dosage: UNK
  624. FOLIC ACID [Concomitant]
     Active Substance: FOLIC ACID
     Dosage: UNK
  625. FOLIC ACID [Concomitant]
     Active Substance: FOLIC ACID
     Dosage: UNK
  626. FOLIC ACID [Concomitant]
     Active Substance: FOLIC ACID
     Dosage: UNK
  627. FOLIC ACID [Concomitant]
     Active Substance: FOLIC ACID
     Dosage: UNK
  628. FOLIC ACID [Concomitant]
     Active Substance: FOLIC ACID
     Dosage: UNK
  629. FOLIC ACID [Concomitant]
     Active Substance: FOLIC ACID
     Dosage: UNK
  630. FOLIC ACID [Concomitant]
     Active Substance: FOLIC ACID
     Dosage: UNK
  631. FOLIC ACID [Concomitant]
     Active Substance: FOLIC ACID
     Dosage: UNK
  632. FOLIC ACID [Concomitant]
     Active Substance: FOLIC ACID
     Dosage: UNK
  633. FOLIC ACID [Concomitant]
     Active Substance: FOLIC ACID
     Dosage: UNK
  634. FOLIC ACID [Concomitant]
     Active Substance: FOLIC ACID
     Dosage: UNK
  635. FOLIC ACID [Concomitant]
     Active Substance: FOLIC ACID
     Dosage: UNK
  636. FOLIC ACID [Concomitant]
     Active Substance: FOLIC ACID
     Dosage: UNK,  UNK
  637. FOLIC ACID [Concomitant]
     Active Substance: FOLIC ACID
     Dosage: UNK,  UNK
  638. FOLIC ACID [Concomitant]
     Active Substance: FOLIC ACID
     Dosage: UNK
  639. FOLIC ACID [Concomitant]
     Active Substance: FOLIC ACID
     Dosage: UNK
  640. FOLIC ACID [Concomitant]
     Active Substance: FOLIC ACID
     Dosage: UNK
  641. FOLIC ACID [Concomitant]
     Active Substance: FOLIC ACID
     Dosage: UNK
  642. CETIRIZINE [Concomitant]
     Active Substance: CETIRIZINE HYDROCHLORIDE
     Indication: Abdominal discomfort
     Dosage: UNK, QD
  643. CETIRIZINE [Concomitant]
     Active Substance: CETIRIZINE HYDROCHLORIDE
     Indication: Product used for unknown indication
     Dosage: UNK
  644. CETIRIZINE [Concomitant]
     Active Substance: CETIRIZINE HYDROCHLORIDE
     Indication: Product used for unknown indication
     Dosage: UNK
  645. CETIRIZINE [Concomitant]
     Active Substance: CETIRIZINE HYDROCHLORIDE
     Indication: Abdominal discomfort
     Dosage: UNK
  646. CETIRIZINE [Concomitant]
     Active Substance: CETIRIZINE HYDROCHLORIDE
     Indication: Abdominal discomfort
     Dosage: UNK,  UNK
  647. CETIRIZINE [Concomitant]
     Active Substance: CETIRIZINE HYDROCHLORIDE
     Dosage: UNK,  UNK
  648. CETIRIZINE [Concomitant]
     Active Substance: CETIRIZINE HYDROCHLORIDE
     Dosage: UNK,  UNK
  649. CETIRIZINE [Concomitant]
     Active Substance: CETIRIZINE HYDROCHLORIDE
     Dosage: UNK,  UNK
  650. CETIRIZINE [Concomitant]
     Active Substance: CETIRIZINE HYDROCHLORIDE
     Dosage: UNK
  651. CETIRIZINE [Concomitant]
     Active Substance: CETIRIZINE HYDROCHLORIDE
     Dosage: UNK
  652. CETIRIZINE [Concomitant]
     Active Substance: CETIRIZINE HYDROCHLORIDE
     Dosage: UNK
  653. CETIRIZINE [Concomitant]
     Active Substance: CETIRIZINE HYDROCHLORIDE
     Dosage: UNK
  654. CETIRIZINE [Concomitant]
     Active Substance: CETIRIZINE HYDROCHLORIDE
     Dosage: UNK
  655. CETIRIZINE [Concomitant]
     Active Substance: CETIRIZINE HYDROCHLORIDE
     Dosage: UNK
  656. CETIRIZINE [Concomitant]
     Active Substance: CETIRIZINE HYDROCHLORIDE
     Dosage: UNK,  UNK
  657. CETIRIZINE [Concomitant]
     Active Substance: CETIRIZINE HYDROCHLORIDE
     Dosage: UNK,  UNK
  658. CETIRIZINE [Concomitant]
     Active Substance: CETIRIZINE HYDROCHLORIDE
     Dosage: UNK
  659. CETIRIZINE [Concomitant]
     Active Substance: CETIRIZINE HYDROCHLORIDE
     Dosage: UNK
  660. CETIRIZINE [Concomitant]
     Active Substance: CETIRIZINE HYDROCHLORIDE
     Dosage: UNK
  661. CETIRIZINE [Concomitant]
     Active Substance: CETIRIZINE HYDROCHLORIDE
     Dosage: UNK
  662. CETIRIZINE [Concomitant]
     Active Substance: CETIRIZINE HYDROCHLORIDE
     Dosage: UNK
  663. CETIRIZINE [Concomitant]
     Active Substance: CETIRIZINE HYDROCHLORIDE
     Dosage: UNK
  664. CETIRIZINE [Concomitant]
     Active Substance: CETIRIZINE HYDROCHLORIDE
     Dosage: UNK,  UNK
  665. CETIRIZINE [Concomitant]
     Active Substance: CETIRIZINE HYDROCHLORIDE
     Dosage: UNK,  UNK
  666. CETIRIZINE [Concomitant]
     Active Substance: CETIRIZINE HYDROCHLORIDE
     Dosage: UNK
  667. CETIRIZINE [Concomitant]
     Active Substance: CETIRIZINE HYDROCHLORIDE
     Dosage: UNK, QD
  668. CETIRIZINE [Concomitant]
     Active Substance: CETIRIZINE HYDROCHLORIDE
     Dosage: UNK
  669. CETIRIZINE [Concomitant]
     Active Substance: CETIRIZINE HYDROCHLORIDE
     Dosage: UNK, QD
  670. CETIRIZINE [Concomitant]
     Active Substance: CETIRIZINE HYDROCHLORIDE
     Dosage: UNK
  671. CETIRIZINE [Concomitant]
     Active Substance: CETIRIZINE HYDROCHLORIDE
     Dosage: UNK, QD
  672. CETIRIZINE [Concomitant]
     Active Substance: CETIRIZINE HYDROCHLORIDE
     Dosage: UNK UNK, QD
  673. LEVOTHYROXINE [Concomitant]
     Active Substance: LEVOTHYROXINE
     Indication: Abdominal discomfort
     Dosage: UNK
  674. LEVOTHYROXINE [Concomitant]
     Active Substance: LEVOTHYROXINE
     Indication: Product used for unknown indication
     Dosage: UNK
  675. LEVOTHYROXINE [Concomitant]
     Active Substance: LEVOTHYROXINE
     Indication: Product used for unknown indication
     Dosage: UNK
  676. LEVOTHYROXINE [Concomitant]
     Active Substance: LEVOTHYROXINE
     Indication: Abdominal discomfort
     Dosage: UNK
  677. LEVOTHYROXINE [Concomitant]
     Active Substance: LEVOTHYROXINE
     Indication: Abdominal discomfort
     Dosage: UNK,  UNK
  678. LEVOTHYROXINE [Concomitant]
     Active Substance: LEVOTHYROXINE
     Indication: Pituitary tumour
     Dosage: UNK,  UNK
  679. LEVOTHYROXINE [Concomitant]
     Active Substance: LEVOTHYROXINE
     Dosage: UNK,  UNK
  680. LEVOTHYROXINE [Concomitant]
     Active Substance: LEVOTHYROXINE
     Dosage: UNK,  UNK
  681. LEVOTHYROXINE [Concomitant]
     Active Substance: LEVOTHYROXINE
     Dosage: UNK
  682. LEVOTHYROXINE [Concomitant]
     Active Substance: LEVOTHYROXINE
     Dosage: UNK
  683. LEVOTHYROXINE [Concomitant]
     Active Substance: LEVOTHYROXINE
     Dosage: UNK
  684. LEVOTHYROXINE [Concomitant]
     Active Substance: LEVOTHYROXINE
     Dosage: UNK
  685. LEVOTHYROXINE [Concomitant]
     Active Substance: LEVOTHYROXINE
     Dosage: UNK
  686. LEVOTHYROXINE [Concomitant]
     Active Substance: LEVOTHYROXINE
     Dosage: UNK,  UNK
  687. LEVOTHYROXINE [Concomitant]
     Active Substance: LEVOTHYROXINE
     Dosage: UNK,  UNK
  688. LEVOTHYROXINE [Concomitant]
     Active Substance: LEVOTHYROXINE
     Dosage: UNK
  689. LEVOTHYROXINE [Concomitant]
     Active Substance: LEVOTHYROXINE
     Dosage: UNK
  690. LEVOTHYROXINE [Concomitant]
     Active Substance: LEVOTHYROXINE
     Dosage: UNK
  691. LEVOTHYROXINE [Concomitant]
     Active Substance: LEVOTHYROXINE
     Dosage: UNK
  692. LEVOTHYROXINE [Concomitant]
     Active Substance: LEVOTHYROXINE
     Dosage: UNK
  693. LEVOTHYROXINE [Concomitant]
     Active Substance: LEVOTHYROXINE
     Dosage: UNK,  UNK
  694. LEVOTHYROXINE [Concomitant]
     Active Substance: LEVOTHYROXINE
     Dosage: UNK,  UNK
  695. LEVOTHYROXINE [Concomitant]
     Active Substance: LEVOTHYROXINE
     Dosage: UNK
  696. LEVOTHYROXINE [Concomitant]
     Active Substance: LEVOTHYROXINE
     Dosage: UNK
  697. LEVOTHYROXINE [Concomitant]
     Active Substance: LEVOTHYROXINE
     Dosage: UNK
  698. LEVOTHYROXINE [Concomitant]
     Active Substance: LEVOTHYROXINE
     Dosage: UNK
  699. LEVOTHYROXINE [Concomitant]
     Active Substance: LEVOTHYROXINE
     Dosage: UNK
  700. LEVOTHYROXINE [Concomitant]
     Active Substance: LEVOTHYROXINE
     Dosage: UNK
  701. LEVOTHYROXINE [Concomitant]
     Active Substance: LEVOTHYROXINE
     Dosage: UNK
  702. DOXYCYCLINE [Concomitant]
     Active Substance: DOXYCYCLINE
     Indication: Pulmonary pain
     Dosage: UNK
  703. DOXYCYCLINE [Concomitant]
     Active Substance: DOXYCYCLINE
     Indication: Product used for unknown indication
     Dosage: UNK,  UNK
  704. DOXYCYCLINE [Concomitant]
     Active Substance: DOXYCYCLINE
     Indication: Pulmonary pain
     Dosage: UNK,  UNK
  705. DOXYCYCLINE [Concomitant]
     Active Substance: DOXYCYCLINE
     Indication: Pituitary tumour
     Dosage: UNK
  706. DOXYCYCLINE [Concomitant]
     Active Substance: DOXYCYCLINE
     Dosage: UNK
  707. DOXYCYCLINE [Concomitant]
     Active Substance: DOXYCYCLINE
     Dosage: UNK,  UNK
  708. DOXYCYCLINE [Concomitant]
     Active Substance: DOXYCYCLINE
     Dosage: UNK
  709. DOXYCYCLINE [Concomitant]
     Active Substance: DOXYCYCLINE
     Dosage: UNK
  710. DOXYCYCLINE [Concomitant]
     Active Substance: DOXYCYCLINE
     Dosage: UNK,  UNK
  711. DOXYCYCLINE [Concomitant]
     Active Substance: DOXYCYCLINE
     Dosage: UNK
  712. DOXYCYCLINE [Concomitant]
     Active Substance: DOXYCYCLINE
     Dosage: UNK
  713. DOXYCYCLINE [Concomitant]
     Active Substance: DOXYCYCLINE
     Dosage: UNK
  714. DOXYCYCLINE [Concomitant]
     Active Substance: DOXYCYCLINE
     Dosage: UNK
  715. ACTIVATED CHARCOAL [Concomitant]
     Active Substance: ACTIVATED CHARCOAL
     Indication: Product used for unknown indication
     Dosage: 750 MG
  716. ACTIVATED CHARCOAL [Concomitant]
     Active Substance: ACTIVATED CHARCOAL
     Dosage: 750 MG
  717. ACTIVATED CHARCOAL [Concomitant]
     Active Substance: ACTIVATED CHARCOAL
     Dosage: 750 MG, 1X/DAY
  718. ACTIVATED CHARCOAL [Concomitant]
     Active Substance: ACTIVATED CHARCOAL
     Dosage: 750 MG,  UNK
  719. ACTIVATED CHARCOAL [Concomitant]
     Active Substance: ACTIVATED CHARCOAL
     Dosage: 750 MG,  UNK
  720. METHOCARBAMOL [Concomitant]
     Active Substance: METHOCARBAMOL
     Indication: Depression
     Dosage: UNK
  721. METHOCARBAMOL [Concomitant]
     Active Substance: METHOCARBAMOL
     Indication: Product used for unknown indication
     Dosage: 750 MILLIGRAM, QD
  722. METHOCARBAMOL [Concomitant]
     Active Substance: METHOCARBAMOL
     Dosage: 750 MILLIGRAM, QD
  723. METHOCARBAMOL [Concomitant]
     Active Substance: METHOCARBAMOL
     Dosage: 750 MILLIGRAM, QD
  724. METHOCARBAMOL [Concomitant]
     Active Substance: METHOCARBAMOL
     Dosage: 750 MILLIGRAM, QD
  725. METHOCARBAMOL [Concomitant]
     Active Substance: METHOCARBAMOL
     Dosage: 750 MILLIGRAM, QD
  726. METHOCARBAMOL [Concomitant]
     Active Substance: METHOCARBAMOL
     Dosage: 750 MILLIGRAM, QD
  727. METHOCARBAMOL [Concomitant]
     Active Substance: METHOCARBAMOL
     Dosage: 750 MILLIGRAM, QD
  728. METHOCARBAMOL [Concomitant]
     Active Substance: METHOCARBAMOL
     Dosage: 750 MILLIGRAM, QD
  729. THEOPHYLLINE [Concomitant]
     Active Substance: THEOPHYLLINE
     Indication: Abdominal discomfort
     Dosage: 750 MG, QD
  730. THEOPHYLLINE [Concomitant]
     Active Substance: THEOPHYLLINE
     Indication: Depression

REACTIONS (15)
  - Lower respiratory tract infection [Not Recovered/Not Resolved]
  - Pulmonary pain [Unknown]
  - Abdominal discomfort [Unknown]
  - Rash [Not Recovered/Not Resolved]
  - Knee arthroplasty [Unknown]
  - Amyloid arthropathy [Unknown]
  - Arthropathy [Unknown]
  - Obesity [Unknown]
  - Drug abuse [Unknown]
  - Product dose omission issue [Unknown]
  - Intentional product misuse [Unknown]
  - Off label use [Unknown]
  - Overdose [Unknown]
  - Drug dependence [Unknown]
  - Product administration error [Unknown]

NARRATIVE: CASE EVENT DATE: 20201001
